FAERS Safety Report 23415167 (Version 10)
Quarter: 2025Q1

REPORT INFORMATION
  Report Type: Spontaneous
  Country: CA (occurrence: CA)
  Receive Date: 20240118
  Receipt Date: 20250307
  Transmission Date: 20250409
  Serious: Yes (Congenital Anomaly)
  Sender: BRISTOL-MYERS SQUIBB COMPANY
  Company Number: CA-BRISTOL-MYERS SQUIBB COMPANY-2022-025869

PATIENT

DRUGS (1299)
  1. ABATACEPT [Suspect]
     Active Substance: ABATACEPT
     Indication: Product used for unknown indication
     Route: 064
  2. ABATACEPT [Suspect]
     Active Substance: ABATACEPT
     Route: 064
  3. ORENCIA [Suspect]
     Active Substance: ABATACEPT
     Indication: Product used for unknown indication
     Route: 064
  4. ORENCIA [Suspect]
     Active Substance: ABATACEPT
     Route: 064
  5. ORENCIA [Suspect]
     Active Substance: ABATACEPT
     Route: 064
  6. ORENCIA [Suspect]
     Active Substance: ABATACEPT
     Route: 064
  7. ORENCIA [Suspect]
     Active Substance: ABATACEPT
     Route: 064
  8. ORENCIA [Suspect]
     Active Substance: ABATACEPT
     Route: 064
  9. ORENCIA [Suspect]
     Active Substance: ABATACEPT
     Route: 064
  10. ORENCIA [Suspect]
     Active Substance: ABATACEPT
     Route: 064
  11. ORENCIA [Suspect]
     Active Substance: ABATACEPT
     Route: 064
  12. ORENCIA [Suspect]
     Active Substance: ABATACEPT
     Route: 064
  13. ORENCIA [Suspect]
     Active Substance: ABATACEPT
     Route: 064
  14. ORENCIA [Suspect]
     Active Substance: ABATACEPT
     Route: 064
  15. ORENCIA [Suspect]
     Active Substance: ABATACEPT
     Route: 064
  16. ORENCIA [Suspect]
     Active Substance: ABATACEPT
     Route: 064
  17. ORENCIA [Suspect]
     Active Substance: ABATACEPT
     Route: 064
  18. ORENCIA [Suspect]
     Active Substance: ABATACEPT
     Route: 064
  19. ORENCIA [Suspect]
     Active Substance: ABATACEPT
     Route: 064
  20. ORENCIA [Suspect]
     Active Substance: ABATACEPT
     Route: 064
  21. ORENCIA [Suspect]
     Active Substance: ABATACEPT
     Route: 064
  22. ORENCIA [Suspect]
     Active Substance: ABATACEPT
     Route: 064
  23. ORENCIA [Suspect]
     Active Substance: ABATACEPT
     Route: 064
  24. ORENCIA [Suspect]
     Active Substance: ABATACEPT
     Route: 064
  25. ORENCIA [Suspect]
     Active Substance: ABATACEPT
     Route: 064
  26. ORENCIA [Suspect]
     Active Substance: ABATACEPT
     Route: 064
  27. ORENCIA [Suspect]
     Active Substance: ABATACEPT
     Route: 064
  28. ORENCIA [Suspect]
     Active Substance: ABATACEPT
     Route: 064
  29. ORENCIA [Suspect]
     Active Substance: ABATACEPT
     Route: 064
  30. ORENCIA [Suspect]
     Active Substance: ABATACEPT
     Route: 064
  31. ORENCIA [Suspect]
     Active Substance: ABATACEPT
     Route: 064
  32. ORENCIA [Suspect]
     Active Substance: ABATACEPT
     Indication: Product used for unknown indication
     Route: 064
  33. ORENCIA [Suspect]
     Active Substance: ABATACEPT
     Route: 064
  34. ORENCIA [Suspect]
     Active Substance: ABATACEPT
     Route: 064
  35. ORENCIA [Suspect]
     Active Substance: ABATACEPT
     Route: 064
  36. ORENCIA [Suspect]
     Active Substance: ABATACEPT
     Route: 064
  37. ORENCIA [Suspect]
     Active Substance: ABATACEPT
     Route: 064
  38. ORENCIA [Suspect]
     Active Substance: ABATACEPT
     Route: 064
  39. ORENCIA [Suspect]
     Active Substance: ABATACEPT
     Route: 064
  40. ORENCIA [Suspect]
     Active Substance: ABATACEPT
     Route: 064
  41. ORENCIA [Suspect]
     Active Substance: ABATACEPT
     Route: 064
  42. ORENCIA [Suspect]
     Active Substance: ABATACEPT
     Route: 064
  43. ORENCIA [Suspect]
     Active Substance: ABATACEPT
     Route: 064
  44. ORENCIA [Suspect]
     Active Substance: ABATACEPT
     Route: 064
  45. ORENCIA [Suspect]
     Active Substance: ABATACEPT
     Route: 064
  46. ORENCIA [Suspect]
     Active Substance: ABATACEPT
     Route: 064
  47. ORENCIA [Suspect]
     Active Substance: ABATACEPT
     Route: 064
  48. ORENCIA [Suspect]
     Active Substance: ABATACEPT
     Route: 064
  49. ORENCIA [Suspect]
     Active Substance: ABATACEPT
     Route: 064
  50. ORENCIA [Suspect]
     Active Substance: ABATACEPT
     Route: 064
  51. ORENCIA [Suspect]
     Active Substance: ABATACEPT
     Indication: Product used for unknown indication
     Route: 064
  52. ORENCIA [Suspect]
     Active Substance: ABATACEPT
     Route: 064
  53. ORENCIA [Suspect]
     Active Substance: ABATACEPT
     Route: 064
  54. ORENCIA [Suspect]
     Active Substance: ABATACEPT
     Route: 064
  55. ORENCIA [Suspect]
     Active Substance: ABATACEPT
     Route: 064
  56. ORENCIA [Suspect]
     Active Substance: ABATACEPT
     Route: 064
  57. ORENCIA [Suspect]
     Active Substance: ABATACEPT
     Route: 064
  58. ORENCIA [Suspect]
     Active Substance: ABATACEPT
     Route: 064
  59. ORENCIA [Suspect]
     Active Substance: ABATACEPT
     Route: 064
  60. ORENCIA [Suspect]
     Active Substance: ABATACEPT
     Route: 064
  61. ORENCIA [Suspect]
     Active Substance: ABATACEPT
     Route: 064
  62. ORENCIA [Suspect]
     Active Substance: ABATACEPT
     Route: 064
  63. TRIAMCINOLONE ACETONIDE [Suspect]
     Active Substance: TRIAMCINOLONE ACETONIDE
     Indication: Product used for unknown indication
     Route: 064
  64. TRIAMCINOLONE ACETONIDE [Suspect]
     Active Substance: TRIAMCINOLONE ACETONIDE
     Route: 064
  65. TRIAMCINOLONE ACETONIDE [Suspect]
     Active Substance: TRIAMCINOLONE ACETONIDE
     Route: 064
  66. TRIAMCINOLONE ACETONIDE [Suspect]
     Active Substance: TRIAMCINOLONE ACETONIDE
     Route: 064
  67. TRIAMCINOLONE ACETONIDE [Suspect]
     Active Substance: TRIAMCINOLONE ACETONIDE
     Route: 064
  68. TRIAMCINOLONE ACETONIDE [Suspect]
     Active Substance: TRIAMCINOLONE ACETONIDE
     Route: 064
  69. TRIAMCINOLONE ACETONIDE [Suspect]
     Active Substance: TRIAMCINOLONE ACETONIDE
     Route: 064
  70. TRIAMCINOLONE ACETONIDE [Suspect]
     Active Substance: TRIAMCINOLONE ACETONIDE
     Route: 064
  71. ACETAMINOPHEN AND CODEINE [Concomitant]
     Active Substance: ACETAMINOPHEN\CODEINE PHOSPHATE
     Indication: Product used for unknown indication
     Route: 064
  72. ACTEMRA [Concomitant]
     Active Substance: TOCILIZUMAB
     Indication: Product used for unknown indication
     Route: 064
  73. ACTEMRA [Concomitant]
     Active Substance: TOCILIZUMAB
     Route: 064
  74. ACTEMRA [Concomitant]
     Active Substance: TOCILIZUMAB
     Route: 064
  75. ACTEMRA [Concomitant]
     Active Substance: TOCILIZUMAB
     Route: 064
  76. ACTEMRA [Concomitant]
     Active Substance: TOCILIZUMAB
     Route: 064
  77. ACTEMRA [Concomitant]
     Active Substance: TOCILIZUMAB
     Route: 064
  78. ACTEMRA [Concomitant]
     Active Substance: TOCILIZUMAB
     Route: 064
  79. ACTEMRA [Concomitant]
     Active Substance: TOCILIZUMAB
     Route: 064
  80. ACTEMRA [Concomitant]
     Active Substance: TOCILIZUMAB
     Route: 064
  81. ACTEMRA [Concomitant]
     Active Substance: TOCILIZUMAB
     Route: 064
  82. ACTEMRA [Concomitant]
     Active Substance: TOCILIZUMAB
     Route: 064
  83. ACTEMRA [Concomitant]
     Active Substance: TOCILIZUMAB
     Route: 064
  84. ACTEMRA [Concomitant]
     Active Substance: TOCILIZUMAB
     Route: 064
  85. ACTEMRA [Concomitant]
     Active Substance: TOCILIZUMAB
     Route: 064
  86. ACTEMRA [Concomitant]
     Active Substance: TOCILIZUMAB
     Route: 064
  87. ACTEMRA [Concomitant]
     Active Substance: TOCILIZUMAB
     Route: 064
  88. ACTEMRA [Concomitant]
     Active Substance: TOCILIZUMAB
     Route: 064
  89. ACTEMRA [Concomitant]
     Active Substance: TOCILIZUMAB
     Route: 064
  90. ACTEMRA [Concomitant]
     Active Substance: TOCILIZUMAB
     Route: 064
  91. ACTEMRA [Concomitant]
     Active Substance: TOCILIZUMAB
     Route: 064
  92. ACTEMRA [Concomitant]
     Active Substance: TOCILIZUMAB
     Route: 064
  93. ACTEMRA [Concomitant]
     Active Substance: TOCILIZUMAB
     Route: 064
  94. ACTEMRA [Concomitant]
     Active Substance: TOCILIZUMAB
     Route: 064
  95. ACTEMRA [Concomitant]
     Active Substance: TOCILIZUMAB
     Route: 064
  96. ACTEMRA [Concomitant]
     Active Substance: TOCILIZUMAB
     Route: 064
  97. ACTEMRA [Concomitant]
     Active Substance: TOCILIZUMAB
     Route: 064
  98. ACTEMRA [Concomitant]
     Active Substance: TOCILIZUMAB
     Route: 064
  99. ACTEMRA [Concomitant]
     Active Substance: TOCILIZUMAB
     Route: 064
  100. ACTEMRA [Concomitant]
     Active Substance: TOCILIZUMAB
     Route: 064
  101. ACTEMRA [Concomitant]
     Active Substance: TOCILIZUMAB
     Route: 064
  102. ACTEMRA [Concomitant]
     Active Substance: TOCILIZUMAB
     Route: 064
  103. ACTEMRA [Concomitant]
     Active Substance: TOCILIZUMAB
     Route: 064
  104. ACTEMRA [Concomitant]
     Active Substance: TOCILIZUMAB
     Route: 064
  105. ACTEMRA [Concomitant]
     Active Substance: TOCILIZUMAB
     Route: 064
  106. ACTEMRA [Concomitant]
     Active Substance: TOCILIZUMAB
     Route: 064
  107. ACTEMRA [Concomitant]
     Active Substance: TOCILIZUMAB
     Route: 064
  108. ACTEMRA [Concomitant]
     Active Substance: TOCILIZUMAB
     Route: 064
  109. ACTEMRA [Concomitant]
     Active Substance: TOCILIZUMAB
     Route: 064
  110. ACTEMRA [Concomitant]
     Active Substance: TOCILIZUMAB
     Route: 064
  111. ACTEMRA [Concomitant]
     Active Substance: TOCILIZUMAB
     Route: 064
  112. ACTEMRA [Concomitant]
     Active Substance: TOCILIZUMAB
     Route: 064
  113. ACTEMRA [Concomitant]
     Active Substance: TOCILIZUMAB
     Route: 064
  114. ADALIMUMAB [Concomitant]
     Active Substance: ADALIMUMAB
     Indication: Product used for unknown indication
     Route: 064
  115. ADALIMUMAB [Concomitant]
     Active Substance: ADALIMUMAB
     Route: 064
  116. ADALIMUMAB [Concomitant]
     Active Substance: ADALIMUMAB
     Route: 064
  117. ADALIMUMAB [Concomitant]
     Active Substance: ADALIMUMAB
     Route: 064
  118. ADALIMUMAB [Concomitant]
     Active Substance: ADALIMUMAB
     Route: 064
  119. ADALIMUMAB [Concomitant]
     Active Substance: ADALIMUMAB
     Route: 064
  120. ADALIMUMAB [Concomitant]
     Active Substance: ADALIMUMAB
     Route: 064
  121. ADALIMUMAB [Concomitant]
     Active Substance: ADALIMUMAB
     Route: 064
  122. ADALIMUMAB [Concomitant]
     Active Substance: ADALIMUMAB
     Route: 064
  123. ADALIMUMAB [Concomitant]
     Active Substance: ADALIMUMAB
     Route: 064
  124. ADALIMUMAB [Concomitant]
     Active Substance: ADALIMUMAB
     Route: 064
  125. ALENDRONATE [Concomitant]
     Active Substance: ALENDRONATE SODIUM
     Indication: Product used for unknown indication
     Route: 064
  126. ALENDRONATE [Concomitant]
     Active Substance: ALENDRONATE SODIUM
     Route: 064
  127. ALENDRONATE SODIUM\CHOLECALCIFEROL [Concomitant]
     Active Substance: ALENDRONATE SODIUM\CHOLECALCIFEROL
     Indication: Product used for unknown indication
     Route: 064
  128. ALENDRONATE SODIUM\CHOLECALCIFEROL [Concomitant]
     Active Substance: ALENDRONATE SODIUM\CHOLECALCIFEROL
     Route: 064
  129. ALENDRONIC ACID [Concomitant]
     Active Substance: ALENDRONIC ACID
     Indication: Product used for unknown indication
     Route: 064
  130. ALENDRONIC ACID [Concomitant]
     Active Substance: ALENDRONIC ACID
     Route: 064
  131. ALENDRONIC ACID [Concomitant]
     Active Substance: ALENDRONIC ACID
     Route: 064
  132. ALENDRONIC ACID [Concomitant]
     Active Substance: ALENDRONIC ACID
     Route: 064
  133. ALENDRONIC ACID [Concomitant]
     Active Substance: ALENDRONIC ACID
     Route: 064
  134. ALENDRONIC ACID [Concomitant]
     Active Substance: ALENDRONIC ACID
     Route: 064
  135. ALENDRONIC ACID [Concomitant]
     Active Substance: ALENDRONIC ACID
     Route: 064
  136. ALENDRONIC ACID [Concomitant]
     Active Substance: ALENDRONIC ACID
     Route: 064
  137. PREDNISONE [Concomitant]
     Active Substance: PREDNISONE
     Indication: Product used for unknown indication
     Route: 064
  138. PREDNISONE [Concomitant]
     Active Substance: PREDNISONE
     Route: 064
  139. PREDNISONE [Concomitant]
     Active Substance: PREDNISONE
     Route: 064
  140. PREDNISONE [Concomitant]
     Active Substance: PREDNISONE
     Route: 064
  141. PREDNISONE [Concomitant]
     Active Substance: PREDNISONE
     Route: 064
  142. PREDNISONE [Concomitant]
     Active Substance: PREDNISONE
     Route: 064
  143. PREDNISONE [Concomitant]
     Active Substance: PREDNISONE
     Route: 064
  144. PREDNISONE [Concomitant]
     Active Substance: PREDNISONE
     Route: 064
  145. PREDNISONE [Concomitant]
     Active Substance: PREDNISONE
     Route: 064
  146. PREDNISONE [Concomitant]
     Active Substance: PREDNISONE
     Route: 064
  147. PREDNISONE [Concomitant]
     Active Substance: PREDNISONE
     Route: 064
  148. PREDNISONE [Concomitant]
     Active Substance: PREDNISONE
     Route: 064
  149. PREDNISONE [Concomitant]
     Active Substance: PREDNISONE
     Route: 064
  150. PREDNISONE [Concomitant]
     Active Substance: PREDNISONE
     Route: 064
  151. PREDNISONE [Concomitant]
     Active Substance: PREDNISONE
     Route: 064
  152. ARAVA [Concomitant]
     Active Substance: LEFLUNOMIDE
     Indication: Product used for unknown indication
     Route: 064
  153. ARAVA [Concomitant]
     Active Substance: LEFLUNOMIDE
     Route: 064
  154. ARAVA [Concomitant]
     Active Substance: LEFLUNOMIDE
     Route: 064
  155. ARAVA [Concomitant]
     Active Substance: LEFLUNOMIDE
     Route: 064
  156. ARAVA [Concomitant]
     Active Substance: LEFLUNOMIDE
     Route: 064
  157. ARAVA [Concomitant]
     Active Substance: LEFLUNOMIDE
     Route: 064
  158. ARAVA [Concomitant]
     Active Substance: LEFLUNOMIDE
     Route: 064
  159. ARAVA [Concomitant]
     Active Substance: LEFLUNOMIDE
     Route: 064
  160. ARAVA [Concomitant]
     Active Substance: LEFLUNOMIDE
     Route: 064
  161. ARAVA [Concomitant]
     Active Substance: LEFLUNOMIDE
     Route: 064
  162. CETIRIZINE [Concomitant]
     Active Substance: CETIRIZINE HYDROCHLORIDE
     Indication: Product used for unknown indication
     Route: 064
  163. CETIRIZINE [Concomitant]
     Active Substance: CETIRIZINE HYDROCHLORIDE
     Route: 064
  164. CETIRIZINE [Concomitant]
     Active Substance: CETIRIZINE HYDROCHLORIDE
     Route: 064
  165. CETIRIZINE [Concomitant]
     Active Substance: CETIRIZINE HYDROCHLORIDE
     Route: 064
  166. CETIRIZINE [Concomitant]
     Active Substance: CETIRIZINE HYDROCHLORIDE
     Route: 064
  167. CETIRIZINE [Concomitant]
     Active Substance: CETIRIZINE HYDROCHLORIDE
     Route: 064
  168. CETIRIZINE [Concomitant]
     Active Substance: CETIRIZINE HYDROCHLORIDE
     Route: 064
  169. CETIRIZINE [Concomitant]
     Active Substance: CETIRIZINE HYDROCHLORIDE
     Route: 064
  170. CETIRIZINE [Concomitant]
     Active Substance: CETIRIZINE HYDROCHLORIDE
     Route: 064
  171. CETIRIZINE [Concomitant]
     Active Substance: CETIRIZINE HYDROCHLORIDE
     Route: 064
  172. CETIRIZINE [Concomitant]
     Active Substance: CETIRIZINE HYDROCHLORIDE
     Route: 064
  173. CETIRIZINE [Concomitant]
     Active Substance: CETIRIZINE HYDROCHLORIDE
     Route: 064
  174. CETIRIZINE [Concomitant]
     Active Substance: CETIRIZINE HYDROCHLORIDE
     Route: 064
  175. CETIRIZINE [Concomitant]
     Active Substance: CETIRIZINE HYDROCHLORIDE
     Route: 064
  176. CETIRIZINE [Concomitant]
     Active Substance: CETIRIZINE HYDROCHLORIDE
     Route: 064
  177. CETIRIZINE [Concomitant]
     Active Substance: CETIRIZINE HYDROCHLORIDE
     Route: 064
  178. CETIRIZINE [Concomitant]
     Active Substance: CETIRIZINE HYDROCHLORIDE
     Route: 064
  179. CHLORHEXIDINE [Concomitant]
     Active Substance: CHLORHEXIDINE
     Indication: Product used for unknown indication
     Route: 064
  180. CHLORHEXIDINE [Concomitant]
     Active Substance: CHLORHEXIDINE
     Route: 064
  181. CHLORHEXIDINE [Concomitant]
     Active Substance: CHLORHEXIDINE
     Route: 064
  182. CHLORHEXIDINE [Concomitant]
     Active Substance: CHLORHEXIDINE
     Route: 064
  183. CHLORHEXIDINE [Concomitant]
     Active Substance: CHLORHEXIDINE
     Route: 064
  184. CHLORHEXIDINE [Concomitant]
     Active Substance: CHLORHEXIDINE
     Route: 064
  185. CHLORHEXIDINE [Concomitant]
     Active Substance: CHLORHEXIDINE
     Route: 064
  186. CHLORHEXIDINE GLUCONATE\ISOPROPYL ALCOHOL [Concomitant]
     Active Substance: CHLORHEXIDINE GLUCONATE\ISOPROPYL ALCOHOL
     Indication: Product used for unknown indication
     Route: 064
  187. CHLORHEXIDINE GLUCONATE\ISOPROPYL ALCOHOL [Concomitant]
     Active Substance: CHLORHEXIDINE GLUCONATE\ISOPROPYL ALCOHOL
     Route: 064
  188. CIMZIA [Concomitant]
     Active Substance: CERTOLIZUMAB PEGOL
     Indication: Product used for unknown indication
     Route: 064
  189. CIMZIA [Concomitant]
     Active Substance: CERTOLIZUMAB PEGOL
     Route: 064
  190. CIMZIA [Concomitant]
     Active Substance: CERTOLIZUMAB PEGOL
     Route: 064
  191. CIMZIA [Concomitant]
     Active Substance: CERTOLIZUMAB PEGOL
     Route: 064
  192. CIMZIA [Concomitant]
     Active Substance: CERTOLIZUMAB PEGOL
     Route: 064
  193. CIMZIA [Concomitant]
     Active Substance: CERTOLIZUMAB PEGOL
     Route: 064
  194. CIMZIA [Concomitant]
     Active Substance: CERTOLIZUMAB PEGOL
     Route: 064
  195. CIMZIA [Concomitant]
     Active Substance: CERTOLIZUMAB PEGOL
     Route: 064
  196. CIMZIA [Concomitant]
     Active Substance: CERTOLIZUMAB PEGOL
     Route: 064
  197. CIMZIA [Concomitant]
     Active Substance: CERTOLIZUMAB PEGOL
     Route: 064
  198. CIMZIA [Concomitant]
     Active Substance: CERTOLIZUMAB PEGOL
     Route: 064
  199. CIMZIA [Concomitant]
     Active Substance: CERTOLIZUMAB PEGOL
     Route: 064
  200. CIMZIA [Concomitant]
     Active Substance: CERTOLIZUMAB PEGOL
     Route: 064
  201. CIMZIA [Concomitant]
     Active Substance: CERTOLIZUMAB PEGOL
     Route: 064
  202. HYDROXYCHLOROQUINE [Concomitant]
     Active Substance: HYDROXYCHLOROQUINE
     Indication: Product used for unknown indication
     Route: 064
  203. HYDROXYCHLOROQUINE [Concomitant]
     Active Substance: HYDROXYCHLOROQUINE
     Route: 064
  204. HYDROXYCHLOROQUINE [Concomitant]
     Active Substance: HYDROXYCHLOROQUINE
     Route: 064
  205. HYDROXYCHLOROQUINE [Concomitant]
     Active Substance: HYDROXYCHLOROQUINE
     Route: 064
  206. HYDROXYCHLOROQUINE [Concomitant]
     Active Substance: HYDROXYCHLOROQUINE
     Route: 064
  207. HYDROXYCHLOROQUINE [Concomitant]
     Active Substance: HYDROXYCHLOROQUINE
     Route: 064
  208. HYDROXYCHLOROQUINE [Concomitant]
     Active Substance: HYDROXYCHLOROQUINE
     Route: 064
  209. HYDROXYCHLOROQUINE [Concomitant]
     Active Substance: HYDROXYCHLOROQUINE
     Route: 064
  210. HYDROXYCHLOROQUINE [Concomitant]
     Active Substance: HYDROXYCHLOROQUINE
     Route: 064
  211. HYDROXYCHLOROQUINE [Concomitant]
     Active Substance: HYDROXYCHLOROQUINE
     Route: 064
  212. HYDROXYCHLOROQUINE [Concomitant]
     Active Substance: HYDROXYCHLOROQUINE
     Route: 064
  213. HYDROXYCHLOROQUINE [Concomitant]
     Active Substance: HYDROXYCHLOROQUINE
     Route: 064
  214. HYDROXYCHLOROQUINE [Concomitant]
     Active Substance: HYDROXYCHLOROQUINE
     Route: 064
  215. HYDROXYCHLOROQUINE [Concomitant]
     Active Substance: HYDROXYCHLOROQUINE
     Route: 064
  216. HYDROXYCHLOROQUINE [Concomitant]
     Active Substance: HYDROXYCHLOROQUINE
     Route: 064
  217. HYDROXYCHLOROQUINE [Concomitant]
     Active Substance: HYDROXYCHLOROQUINE
     Route: 064
  218. HYDROXYCHLOROQUINE [Concomitant]
     Active Substance: HYDROXYCHLOROQUINE
     Route: 064
  219. HYDROXYCHLOROQUINE [Concomitant]
     Active Substance: HYDROXYCHLOROQUINE
     Route: 064
  220. HYDROXYCHLOROQUINE [Concomitant]
     Active Substance: HYDROXYCHLOROQUINE
     Route: 064
  221. HYDROXYCHLOROQUINE [Concomitant]
     Active Substance: HYDROXYCHLOROQUINE
     Route: 064
  222. HYDROXYCHLOROQUINE [Concomitant]
     Active Substance: HYDROXYCHLOROQUINE
     Route: 064
  223. HYDROXYCHLOROQUINE [Concomitant]
     Active Substance: HYDROXYCHLOROQUINE
     Route: 064
  224. HYDROXYCHLOROQUINE [Concomitant]
     Active Substance: HYDROXYCHLOROQUINE
     Route: 064
  225. HYDROXYCHLOROQUINE [Concomitant]
     Active Substance: HYDROXYCHLOROQUINE
     Route: 064
  226. HYDROXYCHLOROQUINE [Concomitant]
     Active Substance: HYDROXYCHLOROQUINE
     Route: 064
  227. HYDROXYCHLOROQUINE [Concomitant]
     Active Substance: HYDROXYCHLOROQUINE
     Route: 064
  228. HYDROXYCHLOROQUINE [Concomitant]
     Active Substance: HYDROXYCHLOROQUINE
     Route: 064
  229. HYDROXYCHLOROQUINE [Concomitant]
     Active Substance: HYDROXYCHLOROQUINE
     Route: 064
  230. HYDROXYCHLOROQUINE [Concomitant]
     Active Substance: HYDROXYCHLOROQUINE
     Route: 064
  231. DESOXIMETASONE [Concomitant]
     Active Substance: DESOXIMETASONE
     Indication: Product used for unknown indication
     Route: 064
  232. DESOXIMETASONE [Concomitant]
     Active Substance: DESOXIMETASONE
     Route: 064
  233. DESOXIMETASONE [Concomitant]
     Active Substance: DESOXIMETASONE
     Route: 064
  234. DESOXIMETASONE [Concomitant]
     Active Substance: DESOXIMETASONE
     Route: 064
  235. DESOXIMETASONE [Concomitant]
     Active Substance: DESOXIMETASONE
     Route: 064
  236. DESOXIMETASONE [Concomitant]
     Active Substance: DESOXIMETASONE
     Route: 064
  237. DESOXIMETASONE [Concomitant]
     Active Substance: DESOXIMETASONE
     Route: 064
  238. DESOXIMETASONE [Concomitant]
     Active Substance: DESOXIMETASONE
     Route: 064
  239. DESOXIMETASONE [Concomitant]
     Active Substance: DESOXIMETASONE
     Route: 064
  240. DESOXIMETASONE [Concomitant]
     Active Substance: DESOXIMETASONE
     Route: 064
  241. DESOXIMETASONE [Concomitant]
     Active Substance: DESOXIMETASONE
     Route: 064
  242. DESOXIMETASONE [Concomitant]
     Active Substance: DESOXIMETASONE
     Route: 064
  243. DESOXIMETASONE [Concomitant]
     Active Substance: DESOXIMETASONE
     Route: 064
  244. DESOXIMETASONE [Concomitant]
     Active Substance: DESOXIMETASONE
     Route: 064
  245. DESOXIMETASONE [Concomitant]
     Active Substance: DESOXIMETASONE
     Route: 064
  246. DESOXIMETASONE [Concomitant]
     Active Substance: DESOXIMETASONE
     Route: 064
  247. DESOXIMETASONE [Concomitant]
     Active Substance: DESOXIMETASONE
     Route: 064
  248. DESOXIMETASONE [Concomitant]
     Active Substance: DESOXIMETASONE
     Route: 064
  249. DESOXIMETASONE [Concomitant]
     Active Substance: DESOXIMETASONE
     Route: 064
  250. DESOXIMETASONE [Concomitant]
     Active Substance: DESOXIMETASONE
     Route: 064
  251. DESOXIMETASONE [Concomitant]
     Active Substance: DESOXIMETASONE
     Route: 064
  252. DESOXIMETASONE [Concomitant]
     Active Substance: DESOXIMETASONE
     Route: 064
  253. DESOXIMETASONE [Concomitant]
     Active Substance: DESOXIMETASONE
     Route: 064
  254. DICLOFENAC [Concomitant]
     Active Substance: DICLOFENAC
     Indication: Product used for unknown indication
     Route: 064
  255. DICLOFENAC [Concomitant]
     Active Substance: DICLOFENAC
     Route: 064
  256. DICLOFENAC [Concomitant]
     Active Substance: DICLOFENAC
     Route: 064
  257. DICLOFENAC SODIUM [Concomitant]
     Active Substance: DICLOFENAC SODIUM
     Indication: Product used for unknown indication
     Route: 064
  258. DICLOFENAC SODIUM [Concomitant]
     Active Substance: DICLOFENAC SODIUM
     Route: 064
  259. DICLOFENAC SODIUM [Concomitant]
     Active Substance: DICLOFENAC SODIUM
     Route: 064
  260. DICLOFENAC SODIUM [Concomitant]
     Active Substance: DICLOFENAC SODIUM
     Route: 064
  261. DICLOFENAC SODIUM [Concomitant]
     Active Substance: DICLOFENAC SODIUM
     Route: 064
  262. DICLOFENAC SODIUM [Concomitant]
     Active Substance: DICLOFENAC SODIUM
     Route: 064
  263. ENBREL [Concomitant]
     Active Substance: ETANERCEPT
     Indication: Product used for unknown indication
     Route: 064
  264. ENBREL [Concomitant]
     Active Substance: ETANERCEPT
     Route: 064
  265. ENBREL [Concomitant]
     Active Substance: ETANERCEPT
     Route: 064
  266. ENBREL [Concomitant]
     Active Substance: ETANERCEPT
     Route: 064
  267. ENBREL [Concomitant]
     Active Substance: ETANERCEPT
     Route: 064
  268. ENBREL [Concomitant]
     Active Substance: ETANERCEPT
     Route: 064
  269. ENBREL [Concomitant]
     Active Substance: ETANERCEPT
     Route: 064
  270. ENBREL [Concomitant]
     Active Substance: ETANERCEPT
     Route: 064
  271. ENBREL [Concomitant]
     Active Substance: ETANERCEPT
     Route: 064
  272. ENBREL [Concomitant]
     Active Substance: ETANERCEPT
     Route: 064
  273. ENBREL [Concomitant]
     Active Substance: ETANERCEPT
     Route: 064
  274. ENBREL [Concomitant]
     Active Substance: ETANERCEPT
     Route: 064
  275. ENBREL [Concomitant]
     Active Substance: ETANERCEPT
     Route: 064
  276. ENBREL [Concomitant]
     Active Substance: ETANERCEPT
     Route: 064
  277. ENBREL [Concomitant]
     Active Substance: ETANERCEPT
     Route: 064
  278. FOLIC ACID [Concomitant]
     Active Substance: FOLIC ACID
     Indication: Product used for unknown indication
     Route: 064
  279. FOLIC ACID [Concomitant]
     Active Substance: FOLIC ACID
     Route: 064
  280. FOLIC ACID [Concomitant]
     Active Substance: FOLIC ACID
     Route: 064
  281. FOLIC ACID [Concomitant]
     Active Substance: FOLIC ACID
     Route: 064
  282. FOLIC ACID [Concomitant]
     Active Substance: FOLIC ACID
     Route: 064
  283. FOLIC ACID [Concomitant]
     Active Substance: FOLIC ACID
     Route: 064
  284. FOLIC ACID [Concomitant]
     Active Substance: FOLIC ACID
     Route: 064
  285. FOLIC ACID [Concomitant]
     Active Substance: FOLIC ACID
     Route: 064
  286. FOLIC ACID [Concomitant]
     Active Substance: FOLIC ACID
     Route: 064
  287. FOLIC ACID [Concomitant]
     Active Substance: FOLIC ACID
     Route: 064
  288. FOLIC ACID [Concomitant]
     Active Substance: FOLIC ACID
     Route: 064
  289. FOLIC ACID [Concomitant]
     Active Substance: FOLIC ACID
     Route: 064
  290. FOLIC ACID [Concomitant]
     Active Substance: FOLIC ACID
     Route: 064
  291. FOLIC ACID [Concomitant]
     Active Substance: FOLIC ACID
     Route: 064
  292. FOLIC ACID [Concomitant]
     Active Substance: FOLIC ACID
     Route: 064
  293. FOLIC ACID [Concomitant]
     Active Substance: FOLIC ACID
     Route: 064
  294. FOLIC ACID [Concomitant]
     Active Substance: FOLIC ACID
     Route: 064
  295. FOLIC ACID [Concomitant]
     Active Substance: FOLIC ACID
     Route: 064
  296. FOLIC ACID [Concomitant]
     Active Substance: FOLIC ACID
     Route: 064
  297. FOLIC ACID [Concomitant]
     Active Substance: FOLIC ACID
     Route: 064
  298. FOLIC ACID [Concomitant]
     Active Substance: FOLIC ACID
     Route: 064
  299. FOLIC ACID [Concomitant]
     Active Substance: FOLIC ACID
     Route: 064
  300. FOLIC ACID [Concomitant]
     Active Substance: FOLIC ACID
     Route: 064
  301. FOLIC ACID [Concomitant]
     Active Substance: FOLIC ACID
     Route: 064
  302. FOLIC ACID [Concomitant]
     Active Substance: FOLIC ACID
     Route: 064
  303. FOLIC ACID [Concomitant]
     Active Substance: FOLIC ACID
     Route: 064
  304. FOLIC ACID [Concomitant]
     Active Substance: FOLIC ACID
     Route: 064
  305. FOLIC ACID [Concomitant]
     Active Substance: FOLIC ACID
     Route: 064
  306. FOSAMAX [Concomitant]
     Active Substance: ALENDRONATE SODIUM
     Indication: Product used for unknown indication
     Route: 064
  307. FOSAMAX [Concomitant]
     Active Substance: ALENDRONATE SODIUM
     Route: 064
  308. FOSAMAX [Concomitant]
     Active Substance: ALENDRONATE SODIUM
     Route: 064
  309. FOSAMAX [Concomitant]
     Active Substance: ALENDRONATE SODIUM
     Route: 064
  310. FOSAMAX [Concomitant]
     Active Substance: ALENDRONATE SODIUM
     Route: 064
  311. FOSAMAX [Concomitant]
     Active Substance: ALENDRONATE SODIUM
     Route: 064
  312. FOSAMAX [Concomitant]
     Active Substance: ALENDRONATE SODIUM
     Route: 064
  313. FOSAMAX [Concomitant]
     Active Substance: ALENDRONATE SODIUM
     Route: 064
  314. FOSAMAX [Concomitant]
     Active Substance: ALENDRONATE SODIUM
     Route: 064
  315. FOSAMAX [Concomitant]
     Active Substance: ALENDRONATE SODIUM
     Route: 064
  316. FOSAMAX [Concomitant]
     Active Substance: ALENDRONATE SODIUM
     Route: 064
  317. FOSAMAX [Concomitant]
     Active Substance: ALENDRONATE SODIUM
     Route: 064
  318. FOSAMAX [Concomitant]
     Active Substance: ALENDRONATE SODIUM
     Route: 064
  319. FOSAMAX [Concomitant]
     Active Substance: ALENDRONATE SODIUM
     Route: 064
  320. HUMIRA [Concomitant]
     Active Substance: ADALIMUMAB
     Indication: Product used for unknown indication
     Route: 064
  321. HUMIRA [Concomitant]
     Active Substance: ADALIMUMAB
     Route: 064
  322. HUMIRA [Concomitant]
     Active Substance: ADALIMUMAB
     Route: 064
  323. HUMIRA [Concomitant]
     Active Substance: ADALIMUMAB
     Route: 064
  324. HUMIRA [Concomitant]
     Active Substance: ADALIMUMAB
     Route: 064
  325. HUMIRA [Concomitant]
     Active Substance: ADALIMUMAB
     Route: 064
  326. HUMIRA [Concomitant]
     Active Substance: ADALIMUMAB
     Route: 064
  327. HUMIRA [Concomitant]
     Active Substance: ADALIMUMAB
     Route: 064
  328. HUMIRA [Concomitant]
     Active Substance: ADALIMUMAB
     Route: 064
  329. HUMIRA [Concomitant]
     Active Substance: ADALIMUMAB
     Route: 064
  330. HUMIRA [Concomitant]
     Active Substance: ADALIMUMAB
     Route: 064
  331. HUMIRA [Concomitant]
     Active Substance: ADALIMUMAB
     Route: 064
  332. HUMIRA [Concomitant]
     Active Substance: ADALIMUMAB
     Route: 064
  333. HUMIRA [Concomitant]
     Active Substance: ADALIMUMAB
     Route: 064
  334. HUMIRA [Concomitant]
     Active Substance: ADALIMUMAB
     Route: 064
  335. HUMIRA [Concomitant]
     Active Substance: ADALIMUMAB
     Route: 064
  336. HUMIRA [Concomitant]
     Active Substance: ADALIMUMAB
     Route: 064
  337. HYDROCORTISONE ACETATE [Concomitant]
     Active Substance: HYDROCORTISONE ACETATE
     Indication: Product used for unknown indication
     Route: 064
  338. INFLIXIMAB [Concomitant]
     Active Substance: INFLIXIMAB
     Indication: Product used for unknown indication
     Route: 064
  339. INFLIXIMAB [Concomitant]
     Active Substance: INFLIXIMAB
     Route: 064
  340. INFLIXIMAB [Concomitant]
     Active Substance: INFLIXIMAB
     Route: 064
  341. INFLIXIMAB [Concomitant]
     Active Substance: INFLIXIMAB
     Route: 064
  342. INFLIXIMAB [Concomitant]
     Active Substance: INFLIXIMAB
     Route: 064
  343. INFLIXIMAB [Concomitant]
     Active Substance: INFLIXIMAB
     Route: 064
  344. INFLIXIMAB [Concomitant]
     Active Substance: INFLIXIMAB
     Route: 064
  345. KEVZARA [Concomitant]
     Active Substance: SARILUMAB
     Indication: Product used for unknown indication
     Route: 064
  346. KEVZARA [Concomitant]
     Active Substance: SARILUMAB
     Route: 064
  347. LEFLUNOMIDE [Concomitant]
     Active Substance: LEFLUNOMIDE
     Indication: Product used for unknown indication
     Route: 064
  348. LEFLUNOMIDE [Concomitant]
     Active Substance: LEFLUNOMIDE
     Route: 064
  349. LEFLUNOMIDE [Concomitant]
     Active Substance: LEFLUNOMIDE
     Route: 064
  350. LEFLUNOMIDE [Concomitant]
     Active Substance: LEFLUNOMIDE
     Route: 064
  351. LEFLUNOMIDE [Concomitant]
     Active Substance: LEFLUNOMIDE
     Route: 064
  352. LEFLUNOMIDE [Concomitant]
     Active Substance: LEFLUNOMIDE
     Route: 064
  353. LEFLUNOMIDE [Concomitant]
     Active Substance: LEFLUNOMIDE
     Route: 064
  354. LEFLUNOMIDE [Concomitant]
     Active Substance: LEFLUNOMIDE
     Route: 064
  355. LEFLUNOMIDE [Concomitant]
     Active Substance: LEFLUNOMIDE
     Route: 064
  356. LEFLUNOMIDE [Concomitant]
     Active Substance: LEFLUNOMIDE
     Route: 064
  357. LEFLUNOMIDE [Concomitant]
     Active Substance: LEFLUNOMIDE
     Route: 064
  358. LEFLUNOMIDE [Concomitant]
     Active Substance: LEFLUNOMIDE
     Route: 064
  359. LEFLUNOMIDE [Concomitant]
     Active Substance: LEFLUNOMIDE
     Route: 064
  360. LEFLUNOMIDE [Concomitant]
     Active Substance: LEFLUNOMIDE
     Route: 064
  361. LEFLUNOMIDE [Concomitant]
     Active Substance: LEFLUNOMIDE
     Route: 064
  362. LEFLUNOMIDE [Concomitant]
     Active Substance: LEFLUNOMIDE
     Route: 064
  363. LEFLUNOMIDE [Concomitant]
     Active Substance: LEFLUNOMIDE
     Route: 064
  364. METHOTREXATE [Concomitant]
     Active Substance: METHOTREXATE
     Indication: Product used for unknown indication
     Route: 064
  365. METHOTREXATE [Concomitant]
     Active Substance: METHOTREXATE
     Route: 064
  366. METHOTREXATE [Concomitant]
     Active Substance: METHOTREXATE
     Route: 064
  367. METHOTREXATE [Concomitant]
     Active Substance: METHOTREXATE
     Route: 064
  368. METHOTREXATE [Concomitant]
     Active Substance: METHOTREXATE
     Route: 064
  369. METHOTREXATE [Concomitant]
     Active Substance: METHOTREXATE
     Route: 064
  370. METHOTREXATE [Concomitant]
     Active Substance: METHOTREXATE
     Route: 064
  371. METHOTREXATE [Concomitant]
     Active Substance: METHOTREXATE
     Route: 064
  372. METHOTREXATE [Concomitant]
     Active Substance: METHOTREXATE
     Route: 064
  373. METHOTREXATE [Concomitant]
     Active Substance: METHOTREXATE
     Route: 064
  374. METHOTREXATE [Concomitant]
     Active Substance: METHOTREXATE
     Route: 064
  375. METHOTREXATE [Concomitant]
     Active Substance: METHOTREXATE
     Route: 064
  376. METHOTREXATE [Concomitant]
     Active Substance: METHOTREXATE
     Route: 064
  377. METHOTREXATE [Concomitant]
     Active Substance: METHOTREXATE
     Route: 064
  378. METHOTREXATE [Concomitant]
     Active Substance: METHOTREXATE
     Route: 064
  379. METHOTREXATE [Concomitant]
     Active Substance: METHOTREXATE
     Route: 064
  380. METHOTREXATE [Concomitant]
     Active Substance: METHOTREXATE
     Route: 064
  381. METHOTREXATE [Concomitant]
     Active Substance: METHOTREXATE
     Route: 064
  382. METHOTREXATE [Concomitant]
     Active Substance: METHOTREXATE
     Route: 064
  383. METHOTREXATE [Concomitant]
     Active Substance: METHOTREXATE
     Route: 064
  384. METHOTREXATE [Concomitant]
     Active Substance: METHOTREXATE
     Route: 064
  385. METHOTREXATE [Concomitant]
     Active Substance: METHOTREXATE
     Route: 064
  386. METHOTREXATE [Concomitant]
     Active Substance: METHOTREXATE
     Route: 064
  387. METHOTREXATE [Concomitant]
     Active Substance: METHOTREXATE
     Route: 064
  388. METHOTREXATE [Concomitant]
     Active Substance: METHOTREXATE
     Route: 064
  389. METHOTREXATE [Concomitant]
     Active Substance: METHOTREXATE
     Route: 064
  390. METHOTREXATE [Concomitant]
     Active Substance: METHOTREXATE
     Route: 064
  391. METHOTREXATE [Concomitant]
     Active Substance: METHOTREXATE
     Route: 064
  392. METHOTREXATE [Concomitant]
     Active Substance: METHOTREXATE
     Route: 064
  393. METHOTREXATE [Concomitant]
     Active Substance: METHOTREXATE
     Route: 064
  394. METHOTREXATE [Concomitant]
     Active Substance: METHOTREXATE
     Route: 064
  395. METHOTREXATE [Concomitant]
     Active Substance: METHOTREXATE
     Route: 064
  396. METHOTREXATE [Concomitant]
     Active Substance: METHOTREXATE
     Route: 064
  397. METHOTREXATE [Concomitant]
     Active Substance: METHOTREXATE
     Route: 064
  398. METHOTREXATE [Concomitant]
     Active Substance: METHOTREXATE
     Route: 064
  399. METHOTREXATE [Concomitant]
     Active Substance: METHOTREXATE
     Route: 064
  400. METHOTREXATE [Concomitant]
     Active Substance: METHOTREXATE
     Route: 064
  401. METHOTREXATE [Concomitant]
     Active Substance: METHOTREXATE
     Route: 064
  402. METHOTREXATE [Concomitant]
     Active Substance: METHOTREXATE
     Route: 064
  403. METHOTREXATE [Concomitant]
     Active Substance: METHOTREXATE
     Route: 064
  404. METHOTREXATE [Concomitant]
     Active Substance: METHOTREXATE
     Route: 064
  405. METHOTREXATE [Concomitant]
     Active Substance: METHOTREXATE
     Route: 064
  406. METHOTREXATE [Concomitant]
     Active Substance: METHOTREXATE
     Route: 064
  407. METHOTREXATE [Concomitant]
     Active Substance: METHOTREXATE
     Route: 064
  408. METHOTREXATE [Concomitant]
     Active Substance: METHOTREXATE
     Route: 064
  409. METHOTREXATE [Concomitant]
     Active Substance: METHOTREXATE
     Route: 064
  410. METHOTREXATE [Concomitant]
     Active Substance: METHOTREXATE
     Route: 064
  411. METHOTREXATE [Concomitant]
     Active Substance: METHOTREXATE
     Route: 064
  412. METHOTREXATE [Concomitant]
     Active Substance: METHOTREXATE
     Route: 064
  413. METHOTREXATE [Concomitant]
     Active Substance: METHOTREXATE
     Route: 064
  414. METHOTREXATE [Concomitant]
     Active Substance: METHOTREXATE
     Route: 064
  415. METHOTREXATE [Concomitant]
     Active Substance: METHOTREXATE
     Route: 064
  416. METHOTREXATE [Concomitant]
     Active Substance: METHOTREXATE
     Route: 064
  417. METHOTREXATE [Concomitant]
     Active Substance: METHOTREXATE
     Route: 064
  418. METHOTREXATE [Concomitant]
     Active Substance: METHOTREXATE
     Route: 064
  419. METHOTREXATE [Concomitant]
     Active Substance: METHOTREXATE
     Route: 064
  420. METHOTREXATE [Concomitant]
     Active Substance: METHOTREXATE
     Route: 064
  421. METHOTREXATE [Concomitant]
     Active Substance: METHOTREXATE
     Route: 064
  422. METHOTREXATE [Concomitant]
     Active Substance: METHOTREXATE
     Route: 064
  423. METHOTREXATE [Concomitant]
     Active Substance: METHOTREXATE
     Route: 064
  424. METHOTREXATE [Concomitant]
     Active Substance: METHOTREXATE
     Route: 064
  425. METHOTREXATE [Concomitant]
     Active Substance: METHOTREXATE
     Route: 064
  426. METHOTREXATE [Concomitant]
     Active Substance: METHOTREXATE
     Route: 064
  427. METHOTREXATE [Concomitant]
     Active Substance: METHOTREXATE
     Route: 064
  428. METHOTREXATE [Concomitant]
     Active Substance: METHOTREXATE
     Route: 064
  429. METHOTREXATE [Concomitant]
     Active Substance: METHOTREXATE
     Route: 064
  430. METHOTREXATE [Concomitant]
     Active Substance: METHOTREXATE
     Route: 064
  431. METHOTREXATE [Concomitant]
     Active Substance: METHOTREXATE
     Route: 064
  432. METHOTREXATE [Concomitant]
     Active Substance: METHOTREXATE
     Route: 064
  433. METHOTREXATE [Concomitant]
     Active Substance: METHOTREXATE
     Route: 064
  434. METHOTREXATE [Concomitant]
     Active Substance: METHOTREXATE
     Route: 064
  435. METHOTREXATE [Concomitant]
     Active Substance: METHOTREXATE
     Route: 064
  436. METHOTREXATE SODIUM [Concomitant]
     Active Substance: METHOTREXATE SODIUM
     Indication: Product used for unknown indication
     Route: 064
  437. METHOTREXATE SODIUM [Concomitant]
     Active Substance: METHOTREXATE SODIUM
     Route: 064
  438. METHOTREXATE SODIUM [Concomitant]
     Active Substance: METHOTREXATE SODIUM
     Route: 064
  439. METHOTREXATE SODIUM [Concomitant]
     Active Substance: METHOTREXATE SODIUM
     Route: 064
  440. OXYCODONE [Concomitant]
     Active Substance: OXYCODONE
     Indication: Product used for unknown indication
     Route: 064
  441. OXYCODONE TEREPHTHALATE [Concomitant]
     Active Substance: OXYCODONE TEREPHTHALATE
     Indication: Product used for unknown indication
     Route: 064
  442. OXYCODONE TEREPHTHALATE [Concomitant]
     Active Substance: OXYCODONE TEREPHTHALATE
     Route: 064
  443. OXYCODONE TEREPHTHALATE [Concomitant]
     Active Substance: OXYCODONE TEREPHTHALATE
     Route: 064
  444. PERIOGARD [Concomitant]
     Active Substance: CHLORHEXIDINE GLUCONATE
     Indication: Product used for unknown indication
     Route: 064
  445. PERIOGARD [Concomitant]
     Active Substance: CHLORHEXIDINE GLUCONATE
     Route: 064
  446. PERIOGARD [Concomitant]
     Active Substance: CHLORHEXIDINE GLUCONATE
     Route: 064
  447. PERIOGARD [Concomitant]
     Active Substance: CHLORHEXIDINE GLUCONATE
     Route: 064
  448. PHTHALYLSULFATHIAZOLE [Concomitant]
     Active Substance: PHTHALYLSULFATHIAZOLE
     Indication: Product used for unknown indication
     Route: 064
  449. PHTHALYLSULFATHIAZOLE [Concomitant]
     Active Substance: PHTHALYLSULFATHIAZOLE
     Route: 064
  450. PHTHALYLSULFATHIAZOLE [Concomitant]
     Active Substance: PHTHALYLSULFATHIAZOLE
     Route: 064
  451. PHTHALYLSULFATHIAZOLE [Concomitant]
     Active Substance: PHTHALYLSULFATHIAZOLE
     Route: 064
  452. PHTHALYLSULFATHIAZOLE [Concomitant]
     Active Substance: PHTHALYLSULFATHIAZOLE
     Route: 064
  453. PHTHALYLSULFATHIAZOLE [Concomitant]
     Active Substance: PHTHALYLSULFATHIAZOLE
     Route: 064
  454. PHTHALYLSULFATHIAZOLE [Concomitant]
     Active Substance: PHTHALYLSULFATHIAZOLE
     Route: 064
  455. PHTHALYLSULFATHIAZOLE [Concomitant]
     Active Substance: PHTHALYLSULFATHIAZOLE
     Route: 064
  456. PHTHALYLSULFATHIAZOLE [Concomitant]
     Active Substance: PHTHALYLSULFATHIAZOLE
     Route: 064
  457. PHTHALYLSULFATHIAZOLE [Concomitant]
     Active Substance: PHTHALYLSULFATHIAZOLE
     Route: 064
  458. PHTHALYLSULFATHIAZOLE [Concomitant]
     Active Substance: PHTHALYLSULFATHIAZOLE
     Route: 064
  459. PHTHALYLSULFATHIAZOLE [Concomitant]
     Active Substance: PHTHALYLSULFATHIAZOLE
     Route: 064
  460. PHTHALYLSULFATHIAZOLE [Concomitant]
     Active Substance: PHTHALYLSULFATHIAZOLE
     Route: 064
  461. PHTHALYLSULFATHIAZOLE [Concomitant]
     Active Substance: PHTHALYLSULFATHIAZOLE
     Route: 064
  462. PHTHALYLSULFATHIAZOLE [Concomitant]
     Active Substance: PHTHALYLSULFATHIAZOLE
     Route: 064
  463. PHTHALYLSULFATHIAZOLE [Concomitant]
     Active Substance: PHTHALYLSULFATHIAZOLE
     Route: 064
  464. PHTHALYLSULFATHIAZOLE [Concomitant]
     Active Substance: PHTHALYLSULFATHIAZOLE
     Route: 064
  465. PHTHALYLSULFATHIAZOLE [Concomitant]
     Active Substance: PHTHALYLSULFATHIAZOLE
     Route: 064
  466. PHTHALYLSULFATHIAZOLE [Concomitant]
     Active Substance: PHTHALYLSULFATHIAZOLE
     Route: 064
  467. HYDROXYCHLOROQUINE DIPHOSPHATE [Concomitant]
     Active Substance: HYDROXYCHLOROQUINE DIPHOSPHATE
     Indication: Product used for unknown indication
     Route: 064
  468. HYDROXYCHLOROQUINE DIPHOSPHATE [Concomitant]
     Active Substance: HYDROXYCHLOROQUINE DIPHOSPHATE
     Route: 064
  469. HYDROXYCHLOROQUINE DIPHOSPHATE [Concomitant]
     Active Substance: HYDROXYCHLOROQUINE DIPHOSPHATE
     Route: 064
  470. HYDROXYCHLOROQUINE DIPHOSPHATE [Concomitant]
     Active Substance: HYDROXYCHLOROQUINE DIPHOSPHATE
     Route: 064
  471. HYDROXYCHLOROQUINE DIPHOSPHATE [Concomitant]
     Active Substance: HYDROXYCHLOROQUINE DIPHOSPHATE
     Route: 064
  472. HYDROXYCHLOROQUINE DIPHOSPHATE [Concomitant]
     Active Substance: HYDROXYCHLOROQUINE DIPHOSPHATE
     Route: 064
  473. HYDROXYCHLOROQUINE DIPHOSPHATE [Concomitant]
     Active Substance: HYDROXYCHLOROQUINE DIPHOSPHATE
     Route: 064
  474. PREDNISONE [Concomitant]
     Active Substance: PREDNISONE
     Indication: Product used for unknown indication
     Route: 064
  475. PREDNISONE [Concomitant]
     Active Substance: PREDNISONE
     Route: 064
  476. PREDNISONE [Concomitant]
     Active Substance: PREDNISONE
     Route: 064
  477. PREDNISONE [Concomitant]
     Active Substance: PREDNISONE
     Route: 064
  478. PREDNISONE [Concomitant]
     Active Substance: PREDNISONE
     Route: 064
  479. PREDNISONE [Concomitant]
     Active Substance: PREDNISONE
     Route: 064
  480. PREDNISONE [Concomitant]
     Active Substance: PREDNISONE
     Route: 064
  481. PREDNISONE [Concomitant]
     Active Substance: PREDNISONE
     Route: 064
  482. PREDNISONE [Concomitant]
     Active Substance: PREDNISONE
     Route: 064
  483. PREDNISONE [Concomitant]
     Active Substance: PREDNISONE
     Route: 064
  484. PREDNISONE [Concomitant]
     Active Substance: PREDNISONE
     Route: 064
  485. PREDNISONE [Concomitant]
     Active Substance: PREDNISONE
     Route: 064
  486. PREDNISONE [Concomitant]
     Active Substance: PREDNISONE
     Route: 064
  487. PREDNISONE [Concomitant]
     Active Substance: PREDNISONE
     Route: 064
  488. PREDNISONE [Concomitant]
     Active Substance: PREDNISONE
     Route: 064
  489. PREDNISONE [Concomitant]
     Active Substance: PREDNISONE
     Route: 064
  490. PREDNISONE [Concomitant]
     Active Substance: PREDNISONE
     Route: 064
  491. PREDNISONE [Concomitant]
     Active Substance: PREDNISONE
     Route: 064
  492. PREDNISONE [Concomitant]
     Active Substance: PREDNISONE
     Route: 064
  493. PREDNISONE [Concomitant]
     Active Substance: PREDNISONE
     Route: 064
  494. PREDNISONE [Concomitant]
     Active Substance: PREDNISONE
     Route: 064
  495. PREDNISONE [Concomitant]
     Active Substance: PREDNISONE
     Route: 064
  496. PREDNISONE [Concomitant]
     Active Substance: PREDNISONE
     Route: 064
  497. PREDNISONE [Concomitant]
     Active Substance: PREDNISONE
     Route: 064
  498. PSEUDOEPHEDRINE\TRIPROLIDINE [Concomitant]
     Active Substance: PSEUDOEPHEDRINE\TRIPROLIDINE
     Indication: Product used for unknown indication
     Route: 064
  499. PSEUDOEPHEDRINE\TRIPROLIDINE [Concomitant]
     Active Substance: PSEUDOEPHEDRINE\TRIPROLIDINE
     Route: 064
  500. CETIRIZINE HYDROCHLORIDE [Concomitant]
     Active Substance: CETIRIZINE HYDROCHLORIDE
     Indication: Product used for unknown indication
     Route: 064
  501. CETIRIZINE HYDROCHLORIDE [Concomitant]
     Active Substance: CETIRIZINE HYDROCHLORIDE
     Route: 064
  502. CETIRIZINE HYDROCHLORIDE [Concomitant]
     Active Substance: CETIRIZINE HYDROCHLORIDE
     Route: 064
  503. CETIRIZINE HYDROCHLORIDE [Concomitant]
     Active Substance: CETIRIZINE HYDROCHLORIDE
     Route: 064
  504. CETIRIZINE HYDROCHLORIDE [Concomitant]
     Active Substance: CETIRIZINE HYDROCHLORIDE
     Route: 064
  505. CETIRIZINE HYDROCHLORIDE [Concomitant]
     Active Substance: CETIRIZINE HYDROCHLORIDE
     Route: 064
  506. CETIRIZINE HYDROCHLORIDE [Concomitant]
     Active Substance: CETIRIZINE HYDROCHLORIDE
     Route: 064
  507. CETIRIZINE HYDROCHLORIDE [Concomitant]
     Active Substance: CETIRIZINE HYDROCHLORIDE
     Route: 064
  508. REMICADE [Concomitant]
     Active Substance: INFLIXIMAB
     Indication: Product used for unknown indication
     Route: 064
  509. REMICADE [Concomitant]
     Active Substance: INFLIXIMAB
     Route: 064
  510. REMICADE [Concomitant]
     Active Substance: INFLIXIMAB
     Route: 064
  511. REMICADE [Concomitant]
     Active Substance: INFLIXIMAB
     Route: 064
  512. REMICADE [Concomitant]
     Active Substance: INFLIXIMAB
     Route: 064
  513. REMICADE [Concomitant]
     Active Substance: INFLIXIMAB
     Route: 064
  514. REMICADE [Concomitant]
     Active Substance: INFLIXIMAB
     Route: 064
  515. REMICADE [Concomitant]
     Active Substance: INFLIXIMAB
     Route: 064
  516. REMICADE [Concomitant]
     Active Substance: INFLIXIMAB
     Route: 064
  517. REMICADE [Concomitant]
     Active Substance: INFLIXIMAB
     Route: 064
  518. RITUXIMAB [Concomitant]
     Active Substance: RITUXIMAB
     Indication: Product used for unknown indication
     Route: 064
  519. RITUXIMAB [Concomitant]
     Active Substance: RITUXIMAB
     Route: 064
  520. RITUXIMAB [Concomitant]
     Active Substance: RITUXIMAB
     Route: 064
  521. RITUXIMAB [Concomitant]
     Active Substance: RITUXIMAB
     Route: 064
  522. RITUXIMAB [Concomitant]
     Active Substance: RITUXIMAB
     Route: 064
  523. RITUXIMAB [Concomitant]
     Active Substance: RITUXIMAB
     Route: 064
  524. RITUXIMAB [Concomitant]
     Active Substance: RITUXIMAB
     Route: 064
  525. RITUXIMAB [Concomitant]
     Active Substance: RITUXIMAB
     Route: 064
  526. RITUXIMAB [Concomitant]
     Active Substance: RITUXIMAB
     Route: 064
  527. SARILUMAB [Concomitant]
     Active Substance: SARILUMAB
     Indication: Product used for unknown indication
     Route: 064
  528. SIMPONI [Concomitant]
     Active Substance: GOLIMUMAB
     Indication: Product used for unknown indication
     Route: 064
  529. SIMPONI [Concomitant]
     Active Substance: GOLIMUMAB
     Route: 064
  530. SIMPONI [Concomitant]
     Active Substance: GOLIMUMAB
     Route: 064
  531. SIMPONI [Concomitant]
     Active Substance: GOLIMUMAB
     Route: 064
  532. SIMPONI [Concomitant]
     Active Substance: GOLIMUMAB
     Route: 064
  533. SIMPONI [Concomitant]
     Active Substance: GOLIMUMAB
     Route: 064
  534. SIMPONI [Concomitant]
     Active Substance: GOLIMUMAB
     Route: 064
  535. SIMPONI [Concomitant]
     Active Substance: GOLIMUMAB
     Route: 064
  536. SIMPONI [Concomitant]
     Active Substance: GOLIMUMAB
     Route: 064
  537. SIMPONI [Concomitant]
     Active Substance: GOLIMUMAB
     Route: 064
  538. SIMPONI [Concomitant]
     Active Substance: GOLIMUMAB
     Route: 064
  539. STELARA [Concomitant]
     Active Substance: USTEKINUMAB
     Indication: Product used for unknown indication
     Route: 064
  540. STELARA [Concomitant]
     Active Substance: USTEKINUMAB
     Route: 064
  541. STELARA [Concomitant]
     Active Substance: USTEKINUMAB
     Route: 064
  542. STELARA [Concomitant]
     Active Substance: USTEKINUMAB
     Route: 064
  543. STELARA [Concomitant]
     Active Substance: USTEKINUMAB
     Route: 064
  544. STELARA [Concomitant]
     Active Substance: USTEKINUMAB
     Route: 064
  545. SULFAMETHOXAZOLE [Concomitant]
     Active Substance: SULFAMETHOXAZOLE
     Indication: Product used for unknown indication
     Route: 064
  546. SULFAMETHOXAZOLE AND TRIMETHOPRIM [Concomitant]
     Active Substance: SULFAMETHOXAZOLE\TRIMETHOPRIM
     Indication: Product used for unknown indication
     Route: 064
  547. SULFASALAZINE [Concomitant]
     Active Substance: SULFASALAZINE
     Indication: Product used for unknown indication
     Route: 064
  548. SULFASALAZINE [Concomitant]
     Active Substance: SULFASALAZINE
     Route: 064
  549. SULFASALAZINE [Concomitant]
     Active Substance: SULFASALAZINE
     Route: 064
  550. SULFASALAZINE [Concomitant]
     Active Substance: SULFASALAZINE
     Route: 064
  551. SULFASALAZINE [Concomitant]
     Active Substance: SULFASALAZINE
     Route: 064
  552. SULFASALAZINE [Concomitant]
     Active Substance: SULFASALAZINE
     Route: 064
  553. SULFASALAZINE [Concomitant]
     Active Substance: SULFASALAZINE
     Route: 064
  554. SULFASALAZINE [Concomitant]
     Active Substance: SULFASALAZINE
     Route: 064
  555. SULFASALAZINE [Concomitant]
     Active Substance: SULFASALAZINE
     Route: 064
  556. SULFASALAZINE [Concomitant]
     Active Substance: SULFASALAZINE
     Route: 064
  557. SULFASALAZINE [Concomitant]
     Active Substance: SULFASALAZINE
     Route: 064
  558. SULFASALAZINE [Concomitant]
     Active Substance: SULFASALAZINE
     Route: 064
  559. SULFASALAZINE [Concomitant]
     Active Substance: SULFASALAZINE
     Route: 064
  560. SULFASALAZINE [Concomitant]
     Active Substance: SULFASALAZINE
     Route: 064
  561. SULFASALAZINE [Concomitant]
     Active Substance: SULFASALAZINE
     Route: 064
  562. SULFASALAZINE [Concomitant]
     Active Substance: SULFASALAZINE
     Route: 064
  563. SULFASALAZINE [Concomitant]
     Active Substance: SULFASALAZINE
     Route: 064
  564. SULFASALAZINE [Concomitant]
     Active Substance: SULFASALAZINE
     Route: 064
  565. SULFASALAZINE [Concomitant]
     Active Substance: SULFASALAZINE
     Route: 064
  566. SULFASALAZINE [Concomitant]
     Active Substance: SULFASALAZINE
     Route: 064
  567. SULFASALAZINE [Concomitant]
     Active Substance: SULFASALAZINE
     Route: 064
  568. SULFASALAZINE [Concomitant]
     Active Substance: SULFASALAZINE
     Route: 064
  569. SULFASALAZINE [Concomitant]
     Active Substance: SULFASALAZINE
     Route: 064
  570. SULFASALAZINE [Concomitant]
     Active Substance: SULFASALAZINE
     Route: 064
  571. SULFASALAZINE [Concomitant]
     Active Substance: SULFASALAZINE
     Route: 064
  572. SULFASALAZINE [Concomitant]
     Active Substance: SULFASALAZINE
     Route: 064
  573. SULFASALAZINE [Concomitant]
     Active Substance: SULFASALAZINE
     Route: 064
  574. SULFASALAZINE [Concomitant]
     Active Substance: SULFASALAZINE
     Route: 064
  575. SULFASALAZINE [Concomitant]
     Active Substance: SULFASALAZINE
     Route: 064
  576. SULFASALAZINE [Concomitant]
     Active Substance: SULFASALAZINE
     Route: 064
  577. SULFASALAZINE [Concomitant]
     Active Substance: SULFASALAZINE
     Route: 064
  578. SULFASALAZINE [Concomitant]
     Active Substance: SULFASALAZINE
     Route: 064
  579. SULFASALAZINE [Concomitant]
     Active Substance: SULFASALAZINE
     Route: 064
  580. SULFASALAZINE [Concomitant]
     Active Substance: SULFASALAZINE
     Route: 064
  581. SULFASALAZINE [Concomitant]
     Active Substance: SULFASALAZINE
     Route: 064
  582. SULFASALAZINE [Concomitant]
     Active Substance: SULFASALAZINE
     Route: 064
  583. SULFASALAZINE [Concomitant]
     Active Substance: SULFASALAZINE
     Route: 064
  584. SULFASALAZINE [Concomitant]
     Active Substance: SULFASALAZINE
     Route: 064
  585. SULFASALAZINE [Concomitant]
     Active Substance: SULFASALAZINE
     Route: 064
  586. SULFASALAZINE [Concomitant]
     Active Substance: SULFASALAZINE
     Route: 064
  587. SULFASALAZINE [Concomitant]
     Active Substance: SULFASALAZINE
     Route: 064
  588. SULFASALAZINE [Concomitant]
     Active Substance: SULFASALAZINE
     Route: 064
  589. SULFASALAZINE [Concomitant]
     Active Substance: SULFASALAZINE
     Route: 064
  590. SULFASALAZINE [Concomitant]
     Active Substance: SULFASALAZINE
     Route: 064
  591. SULFASALAZINE [Concomitant]
     Active Substance: SULFASALAZINE
     Route: 064
  592. SULFASALAZINE [Concomitant]
     Active Substance: SULFASALAZINE
     Route: 064
  593. SULFASALAZINE [Concomitant]
     Active Substance: SULFASALAZINE
     Route: 064
  594. SULFASALAZINE [Concomitant]
     Active Substance: SULFASALAZINE
     Route: 064
  595. SULFASALAZINE [Concomitant]
     Active Substance: SULFASALAZINE
     Route: 064
  596. SULFASALAZINE [Concomitant]
     Active Substance: SULFASALAZINE
     Route: 064
  597. SULFASALAZINE [Concomitant]
     Active Substance: SULFASALAZINE
     Route: 064
  598. SULFASALAZINE [Concomitant]
     Active Substance: SULFASALAZINE
     Route: 064
  599. SULFASALAZINE [Concomitant]
     Active Substance: SULFASALAZINE
     Route: 064
  600. SULFASALAZINE [Concomitant]
     Active Substance: SULFASALAZINE
     Route: 064
  601. SULFASALAZINE [Concomitant]
     Active Substance: SULFASALAZINE
     Route: 064
  602. SULFASALAZINE [Concomitant]
     Active Substance: SULFASALAZINE
     Route: 064
  603. SULFASALAZINE [Concomitant]
     Active Substance: SULFASALAZINE
     Route: 064
  604. SULFASALAZINE [Concomitant]
     Active Substance: SULFASALAZINE
     Route: 064
  605. SULFASALAZINE [Concomitant]
     Active Substance: SULFASALAZINE
     Route: 064
  606. SULFASALAZINE [Concomitant]
     Active Substance: SULFASALAZINE
     Route: 064
  607. TOPICORT [Concomitant]
     Active Substance: DESOXIMETASONE
     Indication: Product used for unknown indication
     Route: 064
  608. TOPICORT [Concomitant]
     Active Substance: DESOXIMETASONE
     Route: 064
  609. TOPICORT [Concomitant]
     Active Substance: DESOXIMETASONE
     Route: 064
  610. TOPICORT [Concomitant]
     Active Substance: DESOXIMETASONE
     Route: 064
  611. TOPICORT [Concomitant]
     Active Substance: DESOXIMETASONE
     Route: 064
  612. TOPICORT [Concomitant]
     Active Substance: DESOXIMETASONE
     Route: 064
  613. TOPICORT [Concomitant]
     Active Substance: DESOXIMETASONE
     Route: 064
  614. TOPICORT [Concomitant]
     Active Substance: DESOXIMETASONE
     Route: 064
  615. XELJANZ [Concomitant]
     Active Substance: TOFACITINIB CITRATE
     Indication: Product used for unknown indication
     Route: 064
  616. XELJANZ [Concomitant]
     Active Substance: TOFACITINIB CITRATE
     Route: 064
  617. XELJANZ [Concomitant]
     Active Substance: TOFACITINIB CITRATE
     Route: 064
  618. XELJANZ [Concomitant]
     Active Substance: TOFACITINIB CITRATE
     Route: 064
  619. XELJANZ [Concomitant]
     Active Substance: TOFACITINIB CITRATE
     Route: 064
  620. XELJANZ [Concomitant]
     Active Substance: TOFACITINIB CITRATE
     Route: 064
  621. XELJANZ [Concomitant]
     Active Substance: TOFACITINIB CITRATE
     Route: 064
  622. XELJANZ [Concomitant]
     Active Substance: TOFACITINIB CITRATE
     Route: 064
  623. XELJANZ [Concomitant]
     Active Substance: TOFACITINIB CITRATE
     Route: 064
  624. XELJANZ [Concomitant]
     Active Substance: TOFACITINIB CITRATE
     Route: 064
  625. XELJANZ [Concomitant]
     Active Substance: TOFACITINIB CITRATE
     Route: 064
  626. XELJANZ [Concomitant]
     Active Substance: TOFACITINIB CITRATE
     Route: 064
  627. XELJANZ [Concomitant]
     Active Substance: TOFACITINIB CITRATE
     Route: 064
  628. XELJANZ [Concomitant]
     Active Substance: TOFACITINIB CITRATE
     Route: 064
  629. XELJANZ [Concomitant]
     Active Substance: TOFACITINIB CITRATE
     Route: 064
  630. XELJANZ [Concomitant]
     Active Substance: TOFACITINIB CITRATE
     Route: 064
  631. XELJANZ [Concomitant]
     Active Substance: TOFACITINIB CITRATE
     Route: 064
  632. XELJANZ [Concomitant]
     Active Substance: TOFACITINIB CITRATE
     Route: 064
  633. XELJANZ [Concomitant]
     Active Substance: TOFACITINIB CITRATE
     Route: 064
  634. XELJANZ [Concomitant]
     Active Substance: TOFACITINIB CITRATE
     Route: 064
  635. XELJANZ [Concomitant]
     Active Substance: TOFACITINIB CITRATE
     Route: 064
  636. XELJANZ [Concomitant]
     Active Substance: TOFACITINIB CITRATE
     Route: 064
  637. XELJANZ [Concomitant]
     Active Substance: TOFACITINIB CITRATE
     Route: 064
  638. XELJANZ [Concomitant]
     Active Substance: TOFACITINIB CITRATE
     Route: 064
  639. XELJANZ [Concomitant]
     Active Substance: TOFACITINIB CITRATE
     Route: 064
  640. ACETAMINOPHEN [Concomitant]
     Active Substance: ACETAMINOPHEN
     Indication: Product used for unknown indication
     Route: 064
  641. ACETAMINOPHEN [Concomitant]
     Active Substance: ACETAMINOPHEN
     Route: 064
  642. ACETAMINOPHEN [Concomitant]
     Active Substance: ACETAMINOPHEN
     Route: 064
  643. ACETAMINOPHEN [Concomitant]
     Active Substance: ACETAMINOPHEN
     Route: 064
  644. ACETAMINOPHEN [Concomitant]
     Active Substance: ACETAMINOPHEN
     Route: 064
  645. CAFFEINE CITRATE [Concomitant]
     Active Substance: CAFFEINE CITRATE
     Indication: Product used for unknown indication
     Route: 064
  646. CHOLECALCIFEROL [Concomitant]
     Active Substance: CHOLECALCIFEROL
     Indication: Product used for unknown indication
     Route: 064
  647. CHOLECALCIFEROL [Concomitant]
     Active Substance: CHOLECALCIFEROL
     Route: 064
  648. CHOLECALCIFEROL [Concomitant]
     Active Substance: CHOLECALCIFEROL
     Route: 064
  649. DESOGESTREL\ETHINYL ESTRADIOL [Concomitant]
     Active Substance: DESOGESTREL\ETHINYL ESTRADIOL
     Indication: Product used for unknown indication
     Route: 064
  650. IBUPROFEN [Concomitant]
     Active Substance: IBUPROFEN
     Indication: Product used for unknown indication
     Route: 064
  651. PANTOPRAZOLE SODIUM [Concomitant]
     Active Substance: PANTOPRAZOLE SODIUM
     Indication: Product used for unknown indication
     Route: 064
  652. PANTOPRAZOLE [Concomitant]
     Active Substance: PANTOPRAZOLE
     Indication: Product used for unknown indication
     Route: 064
  653. PANTOPRAZOLE [Concomitant]
     Active Substance: PANTOPRAZOLE
     Route: 064
  654. SULFASALAZINE [Concomitant]
     Active Substance: SULFASALAZINE
     Indication: Product used for unknown indication
     Route: 064
  655. SULFASALAZINE [Concomitant]
     Active Substance: SULFASALAZINE
     Route: 064
  656. SULFASALAZINE [Concomitant]
     Active Substance: SULFASALAZINE
     Route: 064
  657. SULFASALAZINE [Concomitant]
     Active Substance: SULFASALAZINE
     Route: 064
  658. SULFASALAZINE [Concomitant]
     Active Substance: SULFASALAZINE
     Route: 064
  659. TYLENOL [Concomitant]
     Active Substance: ACETAMINOPHEN
     Indication: Product used for unknown indication
     Route: 064
  660. ZESTRIL [Concomitant]
     Active Substance: LISINOPRIL
     Indication: Product used for unknown indication
     Route: 064
  661. CORTISONE [Concomitant]
     Active Substance: CORTISONE
     Indication: Product used for unknown indication
     Route: 064
  662. CORTISONE [Concomitant]
     Active Substance: CORTISONE
     Route: 064
  663. CORTISONE [Concomitant]
     Active Substance: CORTISONE
     Route: 064
  664. CORTISONE [Concomitant]
     Active Substance: CORTISONE
     Route: 064
  665. CORTISONE [Concomitant]
     Active Substance: CORTISONE
     Route: 064
  666. CORTISONE [Concomitant]
     Active Substance: CORTISONE
     Route: 064
  667. CORTISONE [Concomitant]
     Active Substance: CORTISONE
     Route: 064
  668. CORTISONE [Concomitant]
     Active Substance: CORTISONE
     Route: 064
  669. CORTISONE [Concomitant]
     Active Substance: CORTISONE
     Route: 064
  670. CORTISONE ACETATE [Concomitant]
     Active Substance: CORTISONE ACETATE
     Indication: Product used for unknown indication
     Route: 064
  671. CORTISONE ACETATE [Concomitant]
     Active Substance: CORTISONE ACETATE
     Route: 064
  672. CORTISONE ACETATE [Concomitant]
     Active Substance: CORTISONE ACETATE
     Route: 064
  673. CORTISONE ACETATE [Concomitant]
     Active Substance: CORTISONE ACETATE
     Route: 064
  674. CORTISONE ACETATE [Concomitant]
     Active Substance: CORTISONE ACETATE
     Route: 064
  675. CORTISONE ACETATE [Concomitant]
     Active Substance: CORTISONE ACETATE
     Route: 064
  676. CORTISONE ACETATE [Concomitant]
     Active Substance: CORTISONE ACETATE
     Route: 064
  677. CORTISONE ACETATE [Concomitant]
     Active Substance: CORTISONE ACETATE
     Route: 064
  678. CORTISONE ACETATE [Concomitant]
     Active Substance: CORTISONE ACETATE
     Route: 064
  679. CORTISONE ACETATE [Concomitant]
     Active Substance: CORTISONE ACETATE
     Route: 064
  680. CORTISONE ACETATE [Concomitant]
     Active Substance: CORTISONE ACETATE
     Route: 064
  681. CORTISONE ACETATE [Concomitant]
     Active Substance: CORTISONE ACETATE
     Route: 064
  682. DICLOFENAC SODIUM [Concomitant]
     Active Substance: DICLOFENAC SODIUM
     Indication: Product used for unknown indication
     Route: 064
  683. DICLOFENAC SODIUM [Concomitant]
     Active Substance: DICLOFENAC SODIUM
     Route: 064
  684. DICLOFENAC SODIUM [Concomitant]
     Active Substance: DICLOFENAC SODIUM
     Route: 064
  685. DICLOFENAC SODIUM [Concomitant]
     Active Substance: DICLOFENAC SODIUM
     Route: 064
  686. DICLOFENAC SODIUM [Concomitant]
     Active Substance: DICLOFENAC SODIUM
     Route: 064
  687. DICLOFENAC SODIUM [Concomitant]
     Active Substance: DICLOFENAC SODIUM
     Route: 064
  688. ATIVAN [Concomitant]
     Active Substance: LORAZEPAM
     Indication: Product used for unknown indication
     Route: 064
  689. ATIVAN [Concomitant]
     Active Substance: LORAZEPAM
     Route: 064
  690. AZATHIOPRINE [Concomitant]
     Active Substance: AZATHIOPRINE
     Indication: Product used for unknown indication
     Route: 064
  691. CAFFEINE [Concomitant]
     Active Substance: CAFFEINE
     Indication: Product used for unknown indication
     Route: 064
  692. CALCIUM CARBONATE [Concomitant]
     Active Substance: CALCIUM CARBONATE
     Indication: Product used for unknown indication
     Route: 064
  693. CALCIUM GLUBIONATE [Concomitant]
     Active Substance: CALCIUM GLUBIONATE
     Indication: Product used for unknown indication
     Route: 064
  694. CALCIUM GLUBIONATE [Concomitant]
     Active Substance: CALCIUM GLUBIONATE
     Route: 064
  695. CALCIUM GLUCONATE [Concomitant]
     Active Substance: CALCIUM GLUCONATE
     Indication: Product used for unknown indication
     Route: 064
  696. CELEBREX [Concomitant]
     Active Substance: CELECOXIB
     Indication: Product used for unknown indication
     Route: 064
  697. CELEBREX [Concomitant]
     Active Substance: CELECOXIB
     Route: 064
  698. CELEBREX [Concomitant]
     Active Substance: CELECOXIB
     Route: 064
  699. CELEBREX [Concomitant]
     Active Substance: CELECOXIB
     Route: 064
  700. CELEBREX [Concomitant]
     Active Substance: CELECOXIB
     Route: 064
  701. CELEBREX [Concomitant]
     Active Substance: CELECOXIB
     Route: 064
  702. CELEBREX [Concomitant]
     Active Substance: CELECOXIB
     Route: 064
  703. CELEBREX [Concomitant]
     Active Substance: CELECOXIB
     Route: 064
  704. CELEBREX [Concomitant]
     Active Substance: CELECOXIB
     Route: 064
  705. CHLORAPREP [Concomitant]
     Active Substance: CHLORHEXIDINE GLUCONATE\ISOPROPYL ALCOHOL
     Indication: Product used for unknown indication
     Route: 064
  706. CHLORAPREP [Concomitant]
     Active Substance: CHLORHEXIDINE GLUCONATE\ISOPROPYL ALCOHOL
     Route: 064
  707. CHLORAPREP [Concomitant]
     Active Substance: CHLORHEXIDINE GLUCONATE\ISOPROPYL ALCOHOL
     Route: 064
  708. CHLORHEXIDINE GLUCONATE\ISOPROPYL ALCOHOL [Concomitant]
     Active Substance: CHLORHEXIDINE GLUCONATE\ISOPROPYL ALCOHOL
     Indication: Product used for unknown indication
     Route: 064
  709. CHLORHEXIDINE GLUCONATE\ISOPROPYL ALCOHOL [Concomitant]
     Active Substance: CHLORHEXIDINE GLUCONATE\ISOPROPYL ALCOHOL
     Route: 064
  710. CODEINE [Concomitant]
     Active Substance: CODEINE
     Indication: Product used for unknown indication
     Route: 064
  711. CORTISONE (HYDROCORTISONE) [Concomitant]
     Active Substance: HYDROCORTISONE
     Indication: Product used for unknown indication
     Route: 064
  712. CORTISONE (HYDROCORTISONE) [Concomitant]
     Active Substance: HYDROCORTISONE
     Route: 064
  713. CORTISONE (HYDROCORTISONE) [Concomitant]
     Active Substance: HYDROCORTISONE
     Route: 064
  714. CORTISONE (HYDROCORTISONE) [Concomitant]
     Active Substance: HYDROCORTISONE
     Route: 064
  715. CORTISONE (HYDROCORTISONE) [Concomitant]
     Active Substance: HYDROCORTISONE
     Route: 064
  716. CORTISONE (HYDROCORTISONE) [Concomitant]
     Active Substance: HYDROCORTISONE
     Route: 064
  717. COSENTYX [Concomitant]
     Active Substance: SECUKINUMAB
     Indication: Product used for unknown indication
     Route: 064
  718. COSENTYX [Concomitant]
     Active Substance: SECUKINUMAB
     Route: 064
  719. COSENTYX [Concomitant]
     Active Substance: SECUKINUMAB
     Route: 064
  720. COSENTYX [Concomitant]
     Active Substance: SECUKINUMAB
     Route: 064
  721. COSENTYX [Concomitant]
     Active Substance: SECUKINUMAB
     Route: 064
  722. DEXAMETHASONE [Concomitant]
     Active Substance: DEXAMETHASONE
     Indication: Product used for unknown indication
     Route: 064
  723. DEXAMETHASONE [Concomitant]
     Active Substance: DEXAMETHASONE
     Route: 064
  724. DEXAMETHASONE [Concomitant]
     Active Substance: DEXAMETHASONE
     Route: 064
  725. DEXAMETHASONE [Concomitant]
     Active Substance: DEXAMETHASONE
     Route: 064
  726. DEXAMETHASONE [Concomitant]
     Active Substance: DEXAMETHASONE
     Route: 064
  727. DEXAMETHASONE [Concomitant]
     Active Substance: DEXAMETHASONE
     Route: 064
  728. DEXAMETHASONE [Concomitant]
     Active Substance: DEXAMETHASONE
     Route: 064
  729. DOXYCYCLINE HYCLATE [Concomitant]
     Active Substance: DOXYCYCLINE HYCLATE
     Indication: Product used for unknown indication
     Route: 064
  730. ERELZI [Concomitant]
     Active Substance: ETANERCEPT-SZZS
     Indication: Product used for unknown indication
     Route: 064
  731. ERELZI [Concomitant]
     Active Substance: ETANERCEPT-SZZS
     Route: 064
  732. ERELZI [Concomitant]
     Active Substance: ETANERCEPT-SZZS
     Route: 064
  733. ERELZI [Concomitant]
     Active Substance: ETANERCEPT-SZZS
     Route: 064
  734. ERGOCALCIFEROL [Concomitant]
     Active Substance: ERGOCALCIFEROL
     Indication: Product used for unknown indication
     Route: 064
  735. ERGOCALCIFEROL [Concomitant]
     Active Substance: ERGOCALCIFEROL
     Route: 064
  736. ERYTHROMYCIN [Concomitant]
     Active Substance: ERYTHROMYCIN
     Indication: Product used for unknown indication
     Route: 064
  737. ETHINYL ESTRADIOL\NORETHINDRONE [Concomitant]
     Active Substance: ETHINYL ESTRADIOL\NORETHINDRONE
     Indication: Product used for unknown indication
     Route: 064
  738. FLUMETHASONE PIVALATE [Concomitant]
     Active Substance: FLUMETHASONE PIVALATE
     Indication: Product used for unknown indication
     Route: 064
  739. FLUMETHASONE PIVALATE [Concomitant]
     Active Substance: FLUMETHASONE PIVALATE
     Route: 064
  740. FLUMETHASONE PIVALATE [Concomitant]
     Active Substance: FLUMETHASONE PIVALATE
     Route: 064
  741. FLUMETHASONE PIVALATE [Concomitant]
     Active Substance: FLUMETHASONE PIVALATE
     Route: 064
  742. FLUMETHASONE PIVALATE [Concomitant]
     Active Substance: FLUMETHASONE PIVALATE
     Route: 064
  743. FLUMETHASONE PIVALATE [Concomitant]
     Active Substance: FLUMETHASONE PIVALATE
     Route: 064
  744. GLUCOSAMINE [Concomitant]
     Active Substance: GLUCOSAMINE
     Indication: Product used for unknown indication
     Route: 064
  745. HYDROCORTISONE [Concomitant]
     Active Substance: HYDROCORTISONE
     Indication: Product used for unknown indication
     Route: 064
  746. HYDROCORTISONE [Concomitant]
     Active Substance: HYDROCORTISONE
     Route: 064
  747. HYDROCORTISONE [Concomitant]
     Active Substance: HYDROCORTISONE
     Route: 064
  748. HYDROCORTISONE [Concomitant]
     Active Substance: HYDROCORTISONE
     Route: 064
  749. HYDROCORTISONE [Concomitant]
     Active Substance: HYDROCORTISONE
     Route: 064
  750. HYDROCORTISONE [Concomitant]
     Active Substance: HYDROCORTISONE
     Route: 064
  751. HYDROXYCHLOROQUINE SULFATE [Concomitant]
     Active Substance: HYDROXYCHLOROQUINE SULFATE
     Indication: Product used for unknown indication
     Route: 064
  752. HYDROXYCHLOROQUINE SULFATE [Concomitant]
     Active Substance: HYDROXYCHLOROQUINE SULFATE
     Route: 064
  753. HYDROXYCHLOROQUINE SULFATE [Concomitant]
     Active Substance: HYDROXYCHLOROQUINE SULFATE
     Route: 064
  754. HYDROXYCHLOROQUINE SULFATE [Concomitant]
     Active Substance: HYDROXYCHLOROQUINE SULFATE
     Route: 064
  755. HYDROXYCHLOROQUINE SULFATE [Concomitant]
     Active Substance: HYDROXYCHLOROQUINE SULFATE
     Route: 064
  756. HYDROXYCHLOROQUINE SULFATE [Concomitant]
     Active Substance: HYDROXYCHLOROQUINE SULFATE
     Route: 064
  757. HYDROXYCHLOROQUINE SULFATE [Concomitant]
     Active Substance: HYDROXYCHLOROQUINE SULFATE
     Route: 064
  758. HYDROXYCHLOROQUINE SULFATE [Concomitant]
     Active Substance: HYDROXYCHLOROQUINE SULFATE
     Route: 064
  759. HYDROXYCHLOROQUINE SULFATE [Concomitant]
     Active Substance: HYDROXYCHLOROQUINE SULFATE
     Route: 064
  760. HYDROXYCHLOROQUINE SULFATE [Concomitant]
     Active Substance: HYDROXYCHLOROQUINE SULFATE
     Route: 064
  761. HYDROXYCHLOROQUINE SULFATE [Concomitant]
     Active Substance: HYDROXYCHLOROQUINE SULFATE
     Route: 064
  762. HYDROXYCHLOROQUINE SULFATE [Concomitant]
     Active Substance: HYDROXYCHLOROQUINE SULFATE
     Route: 064
  763. HYDROXYCHLOROQUINE SULFATE [Concomitant]
     Active Substance: HYDROXYCHLOROQUINE SULFATE
     Route: 064
  764. HYDROXYCHLOROQUINE SULFATE [Concomitant]
     Active Substance: HYDROXYCHLOROQUINE SULFATE
     Route: 064
  765. HYDROXYCHLOROQUINE SULFATE [Concomitant]
     Active Substance: HYDROXYCHLOROQUINE SULFATE
     Route: 064
  766. HYDROXYCHLOROQUINE SULFATE [Concomitant]
     Active Substance: HYDROXYCHLOROQUINE SULFATE
     Route: 064
  767. HYDROXYCHLOROQUINE SULFATE [Concomitant]
     Active Substance: HYDROXYCHLOROQUINE SULFATE
     Route: 064
  768. HYDROXYCHLOROQUINE SULFATE [Concomitant]
     Active Substance: HYDROXYCHLOROQUINE SULFATE
     Route: 064
  769. HYDROXYCHLOROQUINE SULFATE [Concomitant]
     Active Substance: HYDROXYCHLOROQUINE SULFATE
     Route: 064
  770. HYDROXYCHLOROQUINE SULFATE [Concomitant]
     Active Substance: HYDROXYCHLOROQUINE SULFATE
     Route: 064
  771. HYDROXYCHLOROQUINE SULFATE [Concomitant]
     Active Substance: HYDROXYCHLOROQUINE SULFATE
     Route: 064
  772. HYDROXYCHLOROQUINE SULFATE [Concomitant]
     Active Substance: HYDROXYCHLOROQUINE SULFATE
     Route: 064
  773. HYDROXYCHLOROQUINE SULFATE [Concomitant]
     Active Substance: HYDROXYCHLOROQUINE SULFATE
     Route: 064
  774. LANSOPRAZOLE [Concomitant]
     Active Substance: LANSOPRAZOLE
     Indication: Product used for unknown indication
     Route: 064
  775. LEVOTHYROXINE SODIUM [Concomitant]
     Active Substance: LEVOTHYROXINE SODIUM
     Indication: Product used for unknown indication
     Route: 064
  776. LISINOPRIL [Concomitant]
     Active Substance: LISINOPRIL
     Indication: Product used for unknown indication
     Route: 064
  777. LISINOPRIL [Concomitant]
     Active Substance: LISINOPRIL
     Indication: Product used for unknown indication
     Route: 064
  778. LISINOPRIL [Concomitant]
     Active Substance: LISINOPRIL
     Route: 064
  779. LYRICA [Concomitant]
     Active Substance: PREGABALIN
     Indication: Product used for unknown indication
     Route: 064
  780. MAGNESIUM [Concomitant]
     Active Substance: MAGNESIUM
     Indication: Product used for unknown indication
     Route: 064
  781. MAGNESIUM [Concomitant]
     Active Substance: MAGNESIUM
     Route: 064
  782. MARVELON [Concomitant]
     Active Substance: DESOGESTREL\ETHINYL ESTRADIOL
     Indication: Product used for unknown indication
     Route: 064
  783. MELOXICAM [Concomitant]
     Active Substance: MELOXICAM
     Indication: Product used for unknown indication
     Route: 064
  784. MORPHINE [Concomitant]
     Active Substance: MORPHINE
     Indication: Product used for unknown indication
     Route: 064
  785. MYCOPHENOLATE MOFETIL [Concomitant]
     Active Substance: MYCOPHENOLATE MOFETIL
     Indication: Product used for unknown indication
     Route: 064
  786. NAPROXEN SODIUM [Concomitant]
     Active Substance: NAPROXEN SODIUM
     Indication: Product used for unknown indication
     Route: 064
  787. NAPROXEN SODIUM [Concomitant]
     Active Substance: NAPROXEN SODIUM
     Route: 064
  788. NAPROXEN SODIUM [Concomitant]
     Active Substance: NAPROXEN SODIUM
     Route: 064
  789. OTEZLA [Concomitant]
     Active Substance: APREMILAST
     Indication: Product used for unknown indication
     Route: 064
  790. OTEZLA [Concomitant]
     Active Substance: APREMILAST
     Route: 064
  791. OTEZLA [Concomitant]
     Active Substance: APREMILAST
     Route: 064
  792. OTEZLA [Concomitant]
     Active Substance: APREMILAST
     Route: 064
  793. OTEZLA [Concomitant]
     Active Substance: APREMILAST
     Route: 064
  794. OTEZLA [Concomitant]
     Active Substance: APREMILAST
     Route: 064
  795. OTEZLA [Concomitant]
     Active Substance: APREMILAST
     Route: 064
  796. OTEZLA [Concomitant]
     Active Substance: APREMILAST
     Route: 064
  797. OTEZLA [Concomitant]
     Active Substance: APREMILAST
     Route: 064
  798. OTEZLA [Concomitant]
     Active Substance: APREMILAST
     Route: 064
  799. OTEZLA [Concomitant]
     Active Substance: APREMILAST
     Route: 064
  800. OTEZLA [Concomitant]
     Active Substance: APREMILAST
     Route: 064
  801. OTEZLA [Concomitant]
     Active Substance: APREMILAST
     Route: 064
  802. PIROXICAM [Concomitant]
     Active Substance: PIROXICAM
     Indication: Product used for unknown indication
     Route: 064
  803. PREDNISOLONE [Concomitant]
     Active Substance: PREDNISOLONE
     Indication: Product used for unknown indication
     Route: 064
  804. QUETIAPINE FUMARATE [Concomitant]
     Active Substance: QUETIAPINE FUMARATE
     Indication: Product used for unknown indication
     Route: 064
  805. QUETIAPINE FUMARATE [Concomitant]
     Active Substance: QUETIAPINE FUMARATE
     Route: 064
  806. RAMIPRIL [Concomitant]
     Active Substance: RAMIPRIL
     Indication: Product used for unknown indication
     Route: 064
  807. RAMIPRIL [Concomitant]
     Active Substance: RAMIPRIL
     Route: 064
  808. RAMIPRIL [Concomitant]
     Active Substance: RAMIPRIL
     Route: 064
  809. CETIRIZINE HYDROCHLORIDE\PSEUDOEPHEDRINE HYDROCHLORIDE [Concomitant]
     Active Substance: CETIRIZINE HYDROCHLORIDE\PSEUDOEPHEDRINE HYDROCHLORIDE
     Indication: Product used for unknown indication
     Route: 064
  810. CETIRIZINE HYDROCHLORIDE\PSEUDOEPHEDRINE HYDROCHLORIDE [Concomitant]
     Active Substance: CETIRIZINE HYDROCHLORIDE\PSEUDOEPHEDRINE HYDROCHLORIDE
     Route: 064
  811. CETIRIZINE HYDROCHLORIDE\PSEUDOEPHEDRINE HYDROCHLORIDE [Concomitant]
     Active Substance: CETIRIZINE HYDROCHLORIDE\PSEUDOEPHEDRINE HYDROCHLORIDE
     Route: 064
  812. CETIRIZINE HYDROCHLORIDE\PSEUDOEPHEDRINE HYDROCHLORIDE [Concomitant]
     Active Substance: CETIRIZINE HYDROCHLORIDE\PSEUDOEPHEDRINE HYDROCHLORIDE
     Route: 064
  813. CETIRIZINE HYDROCHLORIDE\PSEUDOEPHEDRINE HYDROCHLORIDE [Concomitant]
     Active Substance: CETIRIZINE HYDROCHLORIDE\PSEUDOEPHEDRINE HYDROCHLORIDE
     Route: 064
  814. CETIRIZINE HYDROCHLORIDE\PSEUDOEPHEDRINE HYDROCHLORIDE [Concomitant]
     Active Substance: CETIRIZINE HYDROCHLORIDE\PSEUDOEPHEDRINE HYDROCHLORIDE
     Route: 064
  815. CETIRIZINE HYDROCHLORIDE\PSEUDOEPHEDRINE HYDROCHLORIDE [Concomitant]
     Active Substance: CETIRIZINE HYDROCHLORIDE\PSEUDOEPHEDRINE HYDROCHLORIDE
     Route: 064
  816. CETIRIZINE HYDROCHLORIDE\PSEUDOEPHEDRINE HYDROCHLORIDE [Concomitant]
     Active Substance: CETIRIZINE HYDROCHLORIDE\PSEUDOEPHEDRINE HYDROCHLORIDE
     Route: 064
  817. CETIRIZINE HYDROCHLORIDE\PSEUDOEPHEDRINE HYDROCHLORIDE [Concomitant]
     Active Substance: CETIRIZINE HYDROCHLORIDE\PSEUDOEPHEDRINE HYDROCHLORIDE
     Route: 064
  818. CETIRIZINE HYDROCHLORIDE\PSEUDOEPHEDRINE HYDROCHLORIDE [Concomitant]
     Active Substance: CETIRIZINE HYDROCHLORIDE\PSEUDOEPHEDRINE HYDROCHLORIDE
     Route: 064
  819. CETIRIZINE HYDROCHLORIDE\PSEUDOEPHEDRINE HYDROCHLORIDE [Concomitant]
     Active Substance: CETIRIZINE HYDROCHLORIDE\PSEUDOEPHEDRINE HYDROCHLORIDE
     Route: 064
  820. RISEDRONATE SODIUM [Concomitant]
     Active Substance: RISEDRONATE SODIUM
     Indication: Product used for unknown indication
     Route: 064
  821. DIETARY SUPPLEMENT\HERBALS [Concomitant]
     Active Substance: DIETARY SUPPLEMENT\HERBALS
     Indication: Product used for unknown indication
     Route: 064
  822. DIETARY SUPPLEMENT\HERBALS [Concomitant]
     Active Substance: DIETARY SUPPLEMENT\HERBALS
     Route: 064
  823. DIETARY SUPPLEMENT\HERBALS [Concomitant]
     Active Substance: DIETARY SUPPLEMENT\HERBALS
     Route: 064
  824. ALBUTEROL [Concomitant]
     Active Substance: ALBUTEROL
     Indication: Product used for unknown indication
     Route: 064
  825. FISH OIL [Concomitant]
     Active Substance: FISH OIL
     Indication: Product used for unknown indication
     Route: 064
  826. VITAMIN C [Concomitant]
     Active Substance: ASCORBIC ACID
     Indication: Product used for unknown indication
     Route: 064
  827. VITAMIN C [Concomitant]
     Active Substance: ASCORBIC ACID
     Route: 064
  828. VITAMIN C [Concomitant]
     Active Substance: ASCORBIC ACID
     Route: 064
  829. VITAMIN C [Concomitant]
     Active Substance: ASCORBIC ACID
     Route: 064
  830. PREDNISONE [Concomitant]
     Active Substance: PREDNISONE
     Indication: Product used for unknown indication
     Route: 064
  831. PREDNISONE [Concomitant]
     Active Substance: PREDNISONE
     Route: 064
  832. ZOPICLONE [Concomitant]
     Active Substance: ZOPICLONE
     Indication: Product used for unknown indication
     Route: 064
  833. CELECOXIB [Concomitant]
     Active Substance: CELECOXIB
     Indication: Product used for unknown indication
     Route: 064
  834. CELECOXIB [Concomitant]
     Active Substance: CELECOXIB
     Route: 064
  835. CELECOXIB [Concomitant]
     Active Substance: CELECOXIB
     Route: 064
  836. CELECOXIB [Concomitant]
     Active Substance: CELECOXIB
     Route: 064
  837. CELECOXIB [Concomitant]
     Active Substance: CELECOXIB
     Route: 064
  838. CELECOXIB [Concomitant]
     Active Substance: CELECOXIB
     Route: 064
  839. CELECOXIB [Concomitant]
     Active Substance: CELECOXIB
     Route: 064
  840. DICLOFENAC POTASSIUM [Concomitant]
     Active Substance: DICLOFENAC POTASSIUM
     Indication: Product used for unknown indication
     Route: 064
  841. DICLOFENAC POTASSIUM [Concomitant]
     Active Substance: DICLOFENAC POTASSIUM
     Route: 064
  842. DICLOFENAC POTASSIUM [Concomitant]
     Active Substance: DICLOFENAC POTASSIUM
     Route: 064
  843. DICLOFENAC POTASSIUM [Concomitant]
     Active Substance: DICLOFENAC POTASSIUM
     Route: 064
  844. DICLOFENAC POTASSIUM [Concomitant]
     Active Substance: DICLOFENAC POTASSIUM
     Route: 064
  845. DICLOFENAC POTASSIUM [Concomitant]
     Active Substance: DICLOFENAC POTASSIUM
     Route: 064
  846. DICLOFENAC POTASSIUM [Concomitant]
     Active Substance: DICLOFENAC POTASSIUM
     Route: 064
  847. TYLENOL WITH CODEINE [Concomitant]
     Active Substance: ACETAMINOPHEN\CODEINE PHOSPHATE
     Indication: Product used for unknown indication
     Route: 064
  848. HYDROXYCHLOROQUINE SULFATE [Concomitant]
     Active Substance: HYDROXYCHLOROQUINE SULFATE
     Indication: Product used for unknown indication
     Route: 064
  849. ACETAMINOPHEN [Concomitant]
     Active Substance: ACETAMINOPHEN
     Indication: Product used for unknown indication
     Route: 064
  850. ACETAMINOPHEN\CAFFEINE\CODEINE PHOSPHATE [Concomitant]
     Active Substance: ACETAMINOPHEN\CAFFEINE\CODEINE PHOSPHATE
     Indication: Product used for unknown indication
     Route: 064
  851. CALCIUM [Concomitant]
     Active Substance: CALCIUM
     Indication: Product used for unknown indication
     Route: 064
  852. CALCIUM [Concomitant]
     Active Substance: CALCIUM
     Route: 064
  853. CETRIMIDE [Concomitant]
     Active Substance: CETRIMIDE
     Indication: Product used for unknown indication
     Route: 064
  854. DOXYCYCLINE [Concomitant]
     Active Substance: DOXYCYCLINE
     Indication: Product used for unknown indication
     Route: 064
  855. ETANERCEPT [Concomitant]
     Active Substance: ETANERCEPT
     Indication: Product used for unknown indication
     Route: 064
  856. ETANERCEPT [Concomitant]
     Active Substance: ETANERCEPT
     Route: 064
  857. ETANERCEPT [Concomitant]
     Active Substance: ETANERCEPT
     Route: 064
  858. ETANERCEPT [Concomitant]
     Active Substance: ETANERCEPT
     Route: 064
  859. FLUMETHASONE PIVALATE [Concomitant]
     Active Substance: FLUMETHASONE PIVALATE
     Indication: Product used for unknown indication
     Route: 064
  860. FLUMETHASONE PIVALATE [Concomitant]
     Active Substance: FLUMETHASONE PIVALATE
     Route: 064
  861. FLUMETHASONE PIVALATE [Concomitant]
     Active Substance: FLUMETHASONE PIVALATE
     Route: 064
  862. LORAZEPAM [Concomitant]
     Active Substance: LORAZEPAM
     Indication: Product used for unknown indication
     Route: 064
  863. MOXIFLOXACIN [Concomitant]
     Active Substance: MOXIFLOXACIN
     Indication: Product used for unknown indication
     Route: 064
  864. MOXIFLOXACIN [Concomitant]
     Active Substance: MOXIFLOXACIN
     Route: 064
  865. NAPROXEN [Concomitant]
     Active Substance: NAPROXEN
     Indication: Product used for unknown indication
     Route: 064
  866. NAPROXEN [Concomitant]
     Active Substance: NAPROXEN
     Route: 064
  867. NAPROXEN [Concomitant]
     Active Substance: NAPROXEN
     Indication: Product used for unknown indication
     Route: 064
  868. NAPROXEN [Concomitant]
     Active Substance: NAPROXEN
     Route: 064
  869. NAPROXEN [Concomitant]
     Active Substance: NAPROXEN
     Route: 064
  870. NAPROXEN [Concomitant]
     Active Substance: NAPROXEN
     Route: 064
  871. NAPROXEN [Concomitant]
     Active Substance: NAPROXEN
     Route: 064
  872. NAPROXEN [Concomitant]
     Active Substance: NAPROXEN
     Route: 064
  873. NAPROXEN [Concomitant]
     Active Substance: NAPROXEN
     Route: 064
  874. NAPROXEN [Concomitant]
     Active Substance: NAPROXEN
     Route: 064
  875. PREVACID [Concomitant]
     Active Substance: LANSOPRAZOLE
     Indication: Product used for unknown indication
     Route: 064
  876. PSEUDOEPHEDRINE [Concomitant]
     Active Substance: PSEUDOEPHEDRINE
     Indication: Product used for unknown indication
     Route: 064
  877. QUETIAPINE [Concomitant]
     Active Substance: QUETIAPINE
     Indication: Product used for unknown indication
     Route: 064
  878. QUETIAPINE [Concomitant]
     Active Substance: QUETIAPINE
     Route: 064
  879. QUETIAPINE [Concomitant]
     Active Substance: QUETIAPINE
     Route: 064
  880. RITUXAN [Concomitant]
     Active Substance: RITUXIMAB
     Indication: Product used for unknown indication
     Route: 064
  881. SOLU-MEDROL [Concomitant]
     Active Substance: METHYLPREDNISOLONE SODIUM SUCCINATE
     Indication: Product used for unknown indication
     Route: 064
  882. VITAMIN D3 [Concomitant]
     Active Substance: CHOLECALCIFEROL
     Indication: Product used for unknown indication
     Route: 064
  883. VITAMIN D3 [Concomitant]
     Active Substance: CHOLECALCIFEROL
     Route: 064
  884. VITAMIN D3 [Concomitant]
     Active Substance: CHOLECALCIFEROL
     Route: 064
  885. CODEINE PHOSPHATE [Concomitant]
     Active Substance: CODEINE PHOSPHATE
     Indication: Product used for unknown indication
     Route: 064
  886. HYDROCORTISONE BUTYRATE [Concomitant]
     Active Substance: HYDROCORTISONE BUTYRATE
     Indication: Product used for unknown indication
     Route: 064
  887. HYDROCORTISONE BUTYRATE [Concomitant]
     Active Substance: HYDROCORTISONE BUTYRATE
     Route: 064
  888. HYDROCORTISONE BUTYRATE [Concomitant]
     Active Substance: HYDROCORTISONE BUTYRATE
     Route: 064
  889. PANTOPRAZOLE SODIUM [Concomitant]
     Active Substance: PANTOPRAZOLE SODIUM
     Indication: Product used for unknown indication
     Route: 064
  890. PANTOPRAZOLE SODIUM [Concomitant]
     Active Substance: PANTOPRAZOLE SODIUM
     Route: 064
  891. PANTOPRAZOLE SODIUM [Concomitant]
     Active Substance: PANTOPRAZOLE SODIUM
     Route: 064
  892. PANTOPRAZOLE SODIUM [Concomitant]
     Active Substance: PANTOPRAZOLE SODIUM
     Route: 064
  893. DIETARY SUPPLEMENT\HERBALS [Concomitant]
     Active Substance: DIETARY SUPPLEMENT\HERBALS
     Indication: Product used for unknown indication
     Route: 064
  894. ACETAMINOPHEN\CODEINE PHOSPHATE [Concomitant]
     Active Substance: ACETAMINOPHEN\CODEINE PHOSPHATE
     Indication: Product used for unknown indication
     Route: 064
  895. PSEUDOEPHEDRINE HYDROCHLORIDE [Concomitant]
     Active Substance: PSEUDOEPHEDRINE HYDROCHLORIDE
     Indication: Product used for unknown indication
     Route: 064
  896. PSEUDOEPHEDRINE HYDROCHLORIDE [Concomitant]
     Active Substance: PSEUDOEPHEDRINE HYDROCHLORIDE
     Route: 064
  897. PSEUDOEPHEDRINE HYDROCHLORIDE [Concomitant]
     Active Substance: PSEUDOEPHEDRINE HYDROCHLORIDE
     Route: 064
  898. ACETAMINOPHEN\CAFFEINE\CODEINE PHOSPHATE [Concomitant]
     Active Substance: ACETAMINOPHEN\CAFFEINE\CODEINE PHOSPHATE
     Indication: Product used for unknown indication
     Route: 064
  899. ACETAMINOPHEN\CODEINE PHOSPHATE [Concomitant]
     Active Substance: ACETAMINOPHEN\CODEINE PHOSPHATE
     Indication: Product used for unknown indication
     Route: 064
  900. ACETAMINOPHEN\CODEINE PHOSPHATE [Concomitant]
     Active Substance: ACETAMINOPHEN\CODEINE PHOSPHATE
     Route: 064
  901. ACETAMINOPHEN AND CODEINE [Concomitant]
     Active Substance: ACETAMINOPHEN\CODEINE PHOSPHATE
     Indication: Product used for unknown indication
     Route: 064
  902. ALENDRONATE SODIUM [Concomitant]
     Active Substance: ALENDRONATE SODIUM
     Indication: Product used for unknown indication
     Route: 064
  903. ALENDRONATE SODIUM [Concomitant]
     Active Substance: ALENDRONATE SODIUM
     Route: 064
  904. ALENDRONATE SODIUM [Concomitant]
     Active Substance: ALENDRONATE SODIUM
     Route: 064
  905. ALENDRONATE SODIUM [Concomitant]
     Active Substance: ALENDRONATE SODIUM
     Route: 064
  906. ALENDRONATE SODIUM [Concomitant]
     Active Substance: ALENDRONATE SODIUM
     Route: 064
  907. ALENDRONATE SODIUM [Concomitant]
     Active Substance: ALENDRONATE SODIUM
     Route: 064
  908. ALENDRONATE SODIUM [Concomitant]
     Active Substance: ALENDRONATE SODIUM
     Route: 064
  909. ALENDRONATE SODIUM [Concomitant]
     Active Substance: ALENDRONATE SODIUM
     Route: 064
  910. APREPITANT [Concomitant]
     Active Substance: APREPITANT
     Indication: Product used for unknown indication
     Route: 064
  911. CETIRIZINE HYDROCHLORIDE [Concomitant]
     Active Substance: CETIRIZINE HYDROCHLORIDE
     Indication: Product used for unknown indication
     Route: 064
  912. CETIRIZINE HYDROCHLORIDE [Concomitant]
     Active Substance: CETIRIZINE HYDROCHLORIDE
     Route: 064
  913. CETIRIZINE HYDROCHLORIDE [Concomitant]
     Active Substance: CETIRIZINE HYDROCHLORIDE
     Route: 064
  914. CETIRIZINE HYDROCHLORIDE [Concomitant]
     Active Substance: CETIRIZINE HYDROCHLORIDE
     Route: 064
  915. CETIRIZINE HYDROCHLORIDE [Concomitant]
     Active Substance: CETIRIZINE HYDROCHLORIDE
     Route: 064
  916. CETIRIZINE HYDROCHLORIDE [Concomitant]
     Active Substance: CETIRIZINE HYDROCHLORIDE
     Route: 064
  917. CETIRIZINE HYDROCHLORIDE [Concomitant]
     Active Substance: CETIRIZINE HYDROCHLORIDE
     Route: 064
  918. CETIRIZINE HYDROCHLORIDE [Concomitant]
     Active Substance: CETIRIZINE HYDROCHLORIDE
     Route: 064
  919. CETIRIZINE HYDROCHLORIDE [Concomitant]
     Active Substance: CETIRIZINE HYDROCHLORIDE
     Route: 064
  920. CETIRIZINE HYDROCHLORIDE [Concomitant]
     Active Substance: CETIRIZINE HYDROCHLORIDE
     Route: 064
  921. CETIRIZINE HYDROCHLORIDE [Concomitant]
     Active Substance: CETIRIZINE HYDROCHLORIDE
     Route: 064
  922. CETIRIZINE HYDROCHLORIDE [Concomitant]
     Active Substance: CETIRIZINE HYDROCHLORIDE
     Route: 064
  923. CETIRIZINE HYDROCHLORIDE [Concomitant]
     Active Substance: CETIRIZINE HYDROCHLORIDE
     Route: 064
  924. CETIRIZINE HYDROCHLORIDE [Concomitant]
     Active Substance: CETIRIZINE HYDROCHLORIDE
     Route: 064
  925. CETIRIZINE HYDROCHLORIDE [Concomitant]
     Active Substance: CETIRIZINE HYDROCHLORIDE
     Route: 064
  926. CETIRIZINE HYDROCHLORIDE [Concomitant]
     Active Substance: CETIRIZINE HYDROCHLORIDE
     Route: 064
  927. CETIRIZINE HYDROCHLORIDE [Concomitant]
     Active Substance: CETIRIZINE HYDROCHLORIDE
     Route: 064
  928. CETIRIZINE HYDROCHLORIDE [Concomitant]
     Active Substance: CETIRIZINE HYDROCHLORIDE
     Route: 064
  929. CETIRIZINE HYDROCHLORIDE [Concomitant]
     Active Substance: CETIRIZINE HYDROCHLORIDE
     Route: 064
  930. CETIRIZINE HYDROCHLORIDE [Concomitant]
     Active Substance: CETIRIZINE HYDROCHLORIDE
     Route: 064
  931. CETIRIZINE HYDROCHLORIDE [Concomitant]
     Active Substance: CETIRIZINE HYDROCHLORIDE
     Route: 064
  932. CETIRIZINE HYDROCHLORIDE [Concomitant]
     Active Substance: CETIRIZINE HYDROCHLORIDE
     Route: 064
  933. CETIRIZINE HYDROCHLORIDE [Concomitant]
     Active Substance: CETIRIZINE HYDROCHLORIDE
     Route: 064
  934. CETIRIZINE HYDROCHLORIDE [Concomitant]
     Active Substance: CETIRIZINE HYDROCHLORIDE
     Route: 064
  935. CETIRIZINE HYDROCHLORIDE [Concomitant]
     Active Substance: CETIRIZINE HYDROCHLORIDE
     Route: 064
  936. CETIRIZINE HYDROCHLORIDE [Concomitant]
     Active Substance: CETIRIZINE HYDROCHLORIDE
     Route: 064
  937. CETIRIZINE HYDROCHLORIDE [Concomitant]
     Active Substance: CETIRIZINE HYDROCHLORIDE
     Route: 064
  938. CETIRIZINE HYDROCHLORIDE [Concomitant]
     Active Substance: CETIRIZINE HYDROCHLORIDE
     Route: 064
  939. CETIRIZINE HYDROCHLORIDE [Concomitant]
     Active Substance: CETIRIZINE HYDROCHLORIDE
     Route: 064
  940. CETIRIZINE HYDROCHLORIDE [Concomitant]
     Active Substance: CETIRIZINE HYDROCHLORIDE
     Route: 064
  941. CETIRIZINE HYDROCHLORIDE [Concomitant]
     Active Substance: CETIRIZINE HYDROCHLORIDE
     Route: 064
  942. CETIRIZINE HYDROCHLORIDE [Concomitant]
     Active Substance: CETIRIZINE HYDROCHLORIDE
     Route: 064
  943. CETIRIZINE HYDROCHLORIDE [Concomitant]
     Active Substance: CETIRIZINE HYDROCHLORIDE
     Route: 064
  944. CETIRIZINE HYDROCHLORIDE [Concomitant]
     Active Substance: CETIRIZINE HYDROCHLORIDE
     Route: 064
  945. CETIRIZINE HYDROCHLORIDE [Concomitant]
     Active Substance: CETIRIZINE HYDROCHLORIDE
     Route: 064
  946. CETIRIZINE HYDROCHLORIDE [Concomitant]
     Active Substance: CETIRIZINE HYDROCHLORIDE
     Route: 064
  947. CETIRIZINE HYDROCHLORIDE [Concomitant]
     Active Substance: CETIRIZINE HYDROCHLORIDE
     Route: 064
  948. CETIRIZINE HYDROCHLORIDE [Concomitant]
     Active Substance: CETIRIZINE HYDROCHLORIDE
     Route: 064
  949. CETIRIZINE HYDROCHLORIDE [Concomitant]
     Active Substance: CETIRIZINE HYDROCHLORIDE
     Route: 064
  950. CHLORHEXIDINE GLUCONATE [Concomitant]
     Active Substance: CHLORHEXIDINE GLUCONATE
     Indication: Product used for unknown indication
     Route: 064
  951. CHLORHEXIDINE GLUCONATE [Concomitant]
     Active Substance: CHLORHEXIDINE GLUCONATE
     Route: 064
  952. CHLORHEXIDINE GLUCONATE\ISOPROPYL ALCOHOL [Concomitant]
     Active Substance: CHLORHEXIDINE GLUCONATE\ISOPROPYL ALCOHOL
     Indication: Product used for unknown indication
     Route: 064
  953. CHLORHEXIDINE GLUCONATE\ISOPROPYL ALCOHOL [Concomitant]
     Active Substance: CHLORHEXIDINE GLUCONATE\ISOPROPYL ALCOHOL
     Route: 064
  954. OXYCODONE HYDROCHLORIDE [Concomitant]
     Active Substance: OXYCODONE HYDROCHLORIDE
     Indication: Product used for unknown indication
     Route: 064
  955. SULFAMETHOXAZOLE\TRIMETHOPRIM [Concomitant]
     Active Substance: SULFAMETHOXAZOLE\TRIMETHOPRIM
     Indication: Product used for unknown indication
     Route: 064
  956. TOCILIZUMAB [Concomitant]
     Active Substance: TOCILIZUMAB
     Indication: Product used for unknown indication
     Route: 064
  957. TOCILIZUMAB [Concomitant]
     Active Substance: TOCILIZUMAB
     Route: 064
  958. TOCILIZUMAB [Concomitant]
     Active Substance: TOCILIZUMAB
     Route: 064
  959. TOCILIZUMAB [Concomitant]
     Active Substance: TOCILIZUMAB
     Route: 064
  960. TOCILIZUMAB [Concomitant]
     Active Substance: TOCILIZUMAB
     Route: 064
  961. TOCILIZUMAB [Concomitant]
     Active Substance: TOCILIZUMAB
     Route: 064
  962. TOCILIZUMAB [Concomitant]
     Active Substance: TOCILIZUMAB
     Route: 064
  963. TOCILIZUMAB [Concomitant]
     Active Substance: TOCILIZUMAB
     Route: 064
  964. TOCILIZUMAB [Concomitant]
     Active Substance: TOCILIZUMAB
     Route: 064
  965. TOCILIZUMAB [Concomitant]
     Active Substance: TOCILIZUMAB
     Route: 064
  966. USTEKINUMAB [Concomitant]
     Active Substance: USTEKINUMAB
     Indication: Product used for unknown indication
     Route: 064
  967. USTEKINUMAB [Concomitant]
     Active Substance: USTEKINUMAB
     Route: 064
  968. USTEKINUMAB [Concomitant]
     Active Substance: USTEKINUMAB
     Route: 064
  969. USTEKINUMAB [Concomitant]
     Active Substance: USTEKINUMAB
     Route: 064
  970. USTEKINUMAB [Concomitant]
     Active Substance: USTEKINUMAB
     Route: 064
  971. EMEND [Concomitant]
     Active Substance: APREPITANT
     Indication: Product used for unknown indication
     Route: 064
  972. EMEND [Concomitant]
     Active Substance: APREPITANT
     Route: 064
  973. ACETAMINOPHEN\OXYCODONE HYDROCHLORIDE [Concomitant]
     Active Substance: ACETAMINOPHEN\OXYCODONE HYDROCHLORIDE
     Indication: Product used for unknown indication
     Route: 064
  974. ACETAMINOPHEN\PROPOXYPHENE [Concomitant]
     Active Substance: ACETAMINOPHEN\PROPOXYPHENE
     Indication: Product used for unknown indication
     Route: 064
  975. CAFFEINE;DIHYDROCODEINE;PARACETAMOL [Concomitant]
     Indication: Product used for unknown indication
     Route: 064
  976. LEFLUNOMIDE [Concomitant]
     Active Substance: LEFLUNOMIDE
     Indication: Product used for unknown indication
     Route: 064
  977. LEFLUNOMIDE [Concomitant]
     Active Substance: LEFLUNOMIDE
     Route: 064
  978. LEFLUNOMIDE [Concomitant]
     Active Substance: LEFLUNOMIDE
     Route: 064
  979. LEFLUNOMIDE [Concomitant]
     Active Substance: LEFLUNOMIDE
     Route: 064
  980. LEFLUNOMIDE [Concomitant]
     Active Substance: LEFLUNOMIDE
     Route: 064
  981. LEFLUNOMIDE [Concomitant]
     Active Substance: LEFLUNOMIDE
     Route: 064
  982. HYDROCORTISONE PROBUTATE [Concomitant]
     Active Substance: HYDROCORTISONE PROBUTATE
     Indication: Product used for unknown indication
     Route: 064
  983. ERGOCALCIFEROL [Concomitant]
     Active Substance: ERGOCALCIFEROL
     Indication: Product used for unknown indication
     Route: 064
  984. HYDROCORTISONE ACETATE [Concomitant]
     Active Substance: HYDROCORTISONE ACETATE
     Indication: Product used for unknown indication
     Route: 064
  985. TRAMADOL HYDROCHLORIDE AND ACETAMINOPHEN [Concomitant]
     Active Substance: ACETAMINOPHEN\TRAMADOL HYDROCHLORIDE
     Indication: Product used for unknown indication
     Route: 064
  986. CETIRIZINE HYDROCHLORIDE\PSEUDOEPHEDRINE HYDROCHLORIDE [Concomitant]
     Active Substance: CETIRIZINE HYDROCHLORIDE\PSEUDOEPHEDRINE HYDROCHLORIDE
     Indication: Product used for unknown indication
     Route: 064
  987. CETIRIZINE HYDROCHLORIDE\PSEUDOEPHEDRINE HYDROCHLORIDE [Concomitant]
     Active Substance: CETIRIZINE HYDROCHLORIDE\PSEUDOEPHEDRINE HYDROCHLORIDE
     Route: 064
  988. CETIRIZINE HYDROCHLORIDE\PSEUDOEPHEDRINE HYDROCHLORIDE [Concomitant]
     Active Substance: CETIRIZINE HYDROCHLORIDE\PSEUDOEPHEDRINE HYDROCHLORIDE
     Route: 064
  989. NEOMYCIN [Concomitant]
     Active Substance: NEOMYCIN
     Indication: Product used for unknown indication
     Route: 064
  990. ALENDRONATE SODIUM [Concomitant]
     Active Substance: ALENDRONATE SODIUM
     Indication: Product used for unknown indication
     Route: 064
  991. ISOPROPYL ALCOHOL [Concomitant]
     Active Substance: ISOPROPYL ALCOHOL
     Indication: Product used for unknown indication
     Route: 064
  992. ISOPROPYL ALCOHOL [Concomitant]
     Active Substance: ISOPROPYL ALCOHOL
     Route: 064
  993. OXYCODONE AND ACETAMINOPHEN [Concomitant]
     Active Substance: ACETAMINOPHEN\OXYCODONE HYDROCHLORIDE
     Indication: Product used for unknown indication
     Route: 064
  994. HYDROXYCHLOROQUINE SULFATE [Concomitant]
     Active Substance: HYDROXYCHLOROQUINE SULFATE
     Indication: Product used for unknown indication
     Route: 064
  995. DESOXIMETASONE [Concomitant]
     Active Substance: DESOXIMETASONE
     Indication: Product used for unknown indication
     Route: 064
  996. DESOXIMETASONE [Concomitant]
     Active Substance: DESOXIMETASONE
     Route: 064
  997. DESOXIMETASONE [Concomitant]
     Active Substance: DESOXIMETASONE
     Route: 064
  998. DESOXIMETASONE [Concomitant]
     Active Substance: DESOXIMETASONE
     Route: 064
  999. DESOXIMETASONE [Concomitant]
     Active Substance: DESOXIMETASONE
     Route: 064
  1000. DESOXIMETASONE [Concomitant]
     Active Substance: DESOXIMETASONE
     Route: 064
  1001. DESOXIMETASONE [Concomitant]
     Active Substance: DESOXIMETASONE
     Route: 064
  1002. DESOXIMETASONE [Concomitant]
     Active Substance: DESOXIMETASONE
     Route: 064
  1003. DESOXIMETASONE [Concomitant]
     Active Substance: DESOXIMETASONE
     Route: 064
  1004. DESOXIMETASONE [Concomitant]
     Active Substance: DESOXIMETASONE
     Route: 064
  1005. DESOXIMETASONE [Concomitant]
     Active Substance: DESOXIMETASONE
     Route: 064
  1006. ETANERCEPT [Concomitant]
     Active Substance: ETANERCEPT
     Indication: Product used for unknown indication
     Route: 064
  1007. AIMOVIG [Concomitant]
     Active Substance: ERENUMAB-AOOE
     Indication: Product used for unknown indication
     Route: 064
  1008. AIMOVIG [Concomitant]
     Active Substance: ERENUMAB-AOOE
     Route: 064
  1009. DICLOFENAC DIETHYLAMINE [Concomitant]
     Active Substance: DICLOFENAC DIETHYLAMINE
     Indication: Product used for unknown indication
     Route: 064
  1010. TOFACITINIB [Concomitant]
     Active Substance: TOFACITINIB
     Indication: Product used for unknown indication
     Route: 064
  1011. TOFACITINIB [Concomitant]
     Active Substance: TOFACITINIB
     Route: 064
  1012. TOFACITINIB [Concomitant]
     Active Substance: TOFACITINIB
     Route: 064
  1013. TOFACITINIB [Concomitant]
     Active Substance: TOFACITINIB
     Route: 064
  1014. TOFACITINIB [Concomitant]
     Active Substance: TOFACITINIB
     Route: 064
  1015. TOFACITINIB [Concomitant]
     Active Substance: TOFACITINIB
     Route: 064
  1016. SULFATHIAZOLE [Concomitant]
     Active Substance: SULFATHIAZOLE
     Indication: Product used for unknown indication
     Route: 064
  1017. GOLD SODIUM THIOMALATE [Concomitant]
     Active Substance: GOLD SODIUM THIOMALATE
     Indication: Product used for unknown indication
     Route: 064
  1018. GOLD SODIUM THIOMALATE [Concomitant]
     Active Substance: GOLD SODIUM THIOMALATE
     Route: 064
  1019. DIETARY SUPPLEMENT [Concomitant]
     Active Substance: DIETARY SUPPLEMENT
     Indication: Product used for unknown indication
     Route: 064
  1020. PHENYLEPHRINE HYDROCHLORIDE [Concomitant]
     Active Substance: PHENYLEPHRINE HYDROCHLORIDE
     Indication: Product used for unknown indication
     Route: 064
  1021. PHENYLEPHRINE HYDROCHLORIDE [Concomitant]
     Active Substance: PHENYLEPHRINE HYDROCHLORIDE
     Route: 064
  1022. NUCALA [Concomitant]
     Active Substance: MEPOLIZUMAB
     Indication: Product used for unknown indication
     Route: 064
  1023. METHYLPREDNISOLONE SODIUM SUCCINATE [Concomitant]
     Active Substance: METHYLPREDNISOLONE SODIUM SUCCINATE
     Indication: Product used for unknown indication
     Route: 064
  1024. METFORMIN HYDROCHLORIDE [Concomitant]
     Active Substance: METFORMIN HYDROCHLORIDE
     Indication: Product used for unknown indication
     Route: 064
  1025. GOLIMUMAB [Concomitant]
     Active Substance: GOLIMUMAB
     Indication: Product used for unknown indication
     Route: 064
  1026. GOLIMUMAB [Concomitant]
     Active Substance: GOLIMUMAB
     Route: 064
  1027. GOLD SODIUM THIOMALATE [Concomitant]
     Active Substance: GOLD SODIUM THIOMALATE
     Indication: Product used for unknown indication
     Route: 064
  1028. GOLD SODIUM THIOMALATE [Concomitant]
     Active Substance: GOLD SODIUM THIOMALATE
     Route: 064
  1029. GOLD SODIUM THIOMALATE [Concomitant]
     Active Substance: GOLD SODIUM THIOMALATE
     Route: 064
  1030. GOLD [Concomitant]
     Active Substance: GOLD
     Indication: Product used for unknown indication
     Route: 064
  1031. GOLD [Concomitant]
     Active Substance: GOLD
     Route: 064
  1032. FLUMETHASONE [Concomitant]
     Active Substance: FLUMETHASONE
     Indication: Product used for unknown indication
     Route: 064
  1033. DOMPERIDONE MALEATE [Concomitant]
     Active Substance: DOMPERIDONE MALEATE
     Indication: Product used for unknown indication
     Route: 064
  1034. DOMPERIDONE MALEATE [Concomitant]
     Active Substance: DOMPERIDONE MALEATE
     Route: 064
  1035. DOMPERIDONE MALEATE [Concomitant]
     Active Substance: DOMPERIDONE MALEATE
     Route: 064
  1036. DOMPERIDONE MALEATE [Concomitant]
     Active Substance: DOMPERIDONE MALEATE
     Route: 064
  1037. DOMPERIDONE MALEATE [Concomitant]
     Active Substance: DOMPERIDONE MALEATE
     Route: 064
  1038. DOMPERIDONE MALEATE [Concomitant]
     Active Substance: DOMPERIDONE MALEATE
     Route: 064
  1039. DICLOFENAC DIETHYLAMINE [Concomitant]
     Active Substance: DICLOFENAC DIETHYLAMINE
     Indication: Product used for unknown indication
     Route: 064
  1040. CERTOLIZUMAB PEGOL [Concomitant]
     Active Substance: CERTOLIZUMAB PEGOL
     Indication: Product used for unknown indication
     Route: 064
  1041. CERTOLIZUMAB PEGOL [Concomitant]
     Active Substance: CERTOLIZUMAB PEGOL
     Route: 064
  1042. CERTOLIZUMAB PEGOL [Concomitant]
     Active Substance: CERTOLIZUMAB PEGOL
     Route: 064
  1043. CERTOLIZUMAB PEGOL [Concomitant]
     Active Substance: CERTOLIZUMAB PEGOL
     Route: 064
  1044. CERTOLIZUMAB PEGOL [Concomitant]
     Active Substance: CERTOLIZUMAB PEGOL
     Route: 064
  1045. CANDESARTAN [Concomitant]
     Active Substance: CANDESARTAN
     Indication: Product used for unknown indication
     Route: 064
  1046. CANDESARTAN [Concomitant]
     Active Substance: CANDESARTAN
     Route: 064
  1047. CANDESARTAN [Concomitant]
     Active Substance: CANDESARTAN
     Route: 064
  1048. CANDESARTAN [Concomitant]
     Active Substance: CANDESARTAN
     Route: 064
  1049. CALCIUM ASCORBATE [Concomitant]
     Active Substance: CALCIUM ASCORBATE
     Indication: Product used for unknown indication
     Route: 064
  1050. CALCIUM CITRATE [Concomitant]
     Active Substance: CALCIUM CITRATE
     Indication: Product used for unknown indication
     Route: 064
  1051. ATOMOXETINE [Concomitant]
     Active Substance: ATOMOXETINE
     Indication: Product used for unknown indication
     Route: 064
  1052. ATOMOXETINE [Concomitant]
     Active Substance: ATOMOXETINE
     Route: 064
  1053. ATOMOXETINE [Concomitant]
     Active Substance: ATOMOXETINE
     Route: 064
  1054. ATOMOXETINE [Concomitant]
     Active Substance: ATOMOXETINE
     Route: 064
  1055. BERINERT [Concomitant]
     Active Substance: HUMAN C1-ESTERASE INHIBITOR
     Indication: Product used for unknown indication
     Route: 064
  1056. BOTULINUM TOXIN TYPE A [Concomitant]
     Active Substance: BOTULINUM TOXIN TYPE A
     Indication: Product used for unknown indication
     Route: 064
  1057. BOTULINUM TOXIN TYPE A [Concomitant]
     Active Substance: BOTULINUM TOXIN TYPE A
     Route: 064
  1058. BOTULINUM TOXIN TYPE A [Concomitant]
     Active Substance: BOTULINUM TOXIN TYPE A
     Route: 064
  1059. BOTULINUM TOXIN TYPE A [Concomitant]
     Active Substance: BOTULINUM TOXIN TYPE A
     Route: 064
  1060. APREMILAST [Concomitant]
     Active Substance: APREMILAST
     Indication: Product used for unknown indication
     Route: 064
  1061. APREMILAST [Concomitant]
     Active Substance: APREMILAST
     Route: 064
  1062. APREMILAST [Concomitant]
     Active Substance: APREMILAST
     Route: 064
  1063. APREMILAST [Concomitant]
     Active Substance: APREMILAST
     Route: 064
  1064. APREMILAST [Concomitant]
     Active Substance: APREMILAST
     Route: 064
  1065. APREMILAST [Concomitant]
     Active Substance: APREMILAST
     Route: 064
  1066. HYALURONIDASE (HUMAN RECOMBINANT) [Concomitant]
     Active Substance: HYALURONIDASE (HUMAN RECOMBINANT)
     Indication: Product used for unknown indication
     Route: 064
  1067. TOFACITINIB CITRATE [Concomitant]
     Active Substance: TOFACITINIB CITRATE
     Indication: Product used for unknown indication
     Route: 064
  1068. TOFACITINIB CITRATE [Concomitant]
     Active Substance: TOFACITINIB CITRATE
     Route: 064
  1069. TOFACITINIB CITRATE [Concomitant]
     Active Substance: TOFACITINIB CITRATE
     Route: 064
  1070. PSEUDOEPHEDRINE HYDROCHLORIDE [Concomitant]
     Active Substance: PSEUDOEPHEDRINE HYDROCHLORIDE
     Indication: Product used for unknown indication
     Route: 064
  1071. PSEUDOEPHEDRINE HYDROCHLORIDE [Concomitant]
     Active Substance: PSEUDOEPHEDRINE HYDROCHLORIDE
     Route: 064
  1072. PSEUDOEPHEDRINE HYDROCHLORIDE [Concomitant]
     Active Substance: PSEUDOEPHEDRINE HYDROCHLORIDE
     Route: 064
  1073. PSEUDOEPHEDRINE HYDROCHLORIDE [Concomitant]
     Active Substance: PSEUDOEPHEDRINE HYDROCHLORIDE
     Route: 064
  1074. PSEUDOEPHEDRINE HYDROCHLORIDE [Concomitant]
     Active Substance: PSEUDOEPHEDRINE HYDROCHLORIDE
     Route: 064
  1075. PSEUDOEPHEDRINE HYDROCHLORIDE [Concomitant]
     Active Substance: PSEUDOEPHEDRINE HYDROCHLORIDE
     Route: 064
  1076. PSEUDOEPHEDRINE HYDROCHLORIDE [Concomitant]
     Active Substance: PSEUDOEPHEDRINE HYDROCHLORIDE
     Route: 064
  1077. PSEUDOEPHEDRINE HYDROCHLORIDE [Concomitant]
     Active Substance: PSEUDOEPHEDRINE HYDROCHLORIDE
     Route: 064
  1078. PSEUDOEPHEDRINE HYDROCHLORIDE [Concomitant]
     Active Substance: PSEUDOEPHEDRINE HYDROCHLORIDE
     Route: 064
  1079. PSEUDOEPHEDRINE HYDROCHLORIDE [Concomitant]
     Active Substance: PSEUDOEPHEDRINE HYDROCHLORIDE
     Route: 064
  1080. PSEUDOEPHEDRINE HYDROCHLORIDE [Concomitant]
     Active Substance: PSEUDOEPHEDRINE HYDROCHLORIDE
     Route: 064
  1081. CETIRIZINE HYDROCHLORIDE\PSEUDOEPHEDRINE HYDROCHLORIDE [Concomitant]
     Active Substance: CETIRIZINE HYDROCHLORIDE\PSEUDOEPHEDRINE HYDROCHLORIDE
     Indication: Product used for unknown indication
     Route: 064
  1082. ACETAMINOPHEN\CAFFEINE\CODEINE PHOSPHATE [Concomitant]
     Active Substance: ACETAMINOPHEN\CAFFEINE\CODEINE PHOSPHATE
     Indication: Product used for unknown indication
     Route: 064
  1083. BETAMETHASONE [Concomitant]
     Active Substance: BETAMETHASONE
     Indication: Product used for unknown indication
     Route: 064
  1084. BETAMETHASONE [Concomitant]
     Active Substance: BETAMETHASONE
     Route: 064
  1085. BETAMETHASONE [Concomitant]
     Active Substance: BETAMETHASONE
     Route: 064
  1086. BETAMETHASONE [Concomitant]
     Active Substance: BETAMETHASONE
     Route: 064
  1087. BUPRENORPHINE [Concomitant]
     Active Substance: BUPRENORPHINE
     Indication: Product used for unknown indication
     Route: 064
  1088. CYCLOBENZAPRINE [Concomitant]
     Active Substance: CYCLOBENZAPRINE
     Indication: Product used for unknown indication
     Route: 064
  1089. CYCLOBENZAPRINE [Concomitant]
     Active Substance: CYCLOBENZAPRINE
     Route: 064
  1090. DOMPERIDONE [Concomitant]
     Active Substance: DOMPERIDONE
     Indication: Product used for unknown indication
     Route: 064
  1091. FINACEA [Concomitant]
     Active Substance: AZELAIC ACID
     Indication: Product used for unknown indication
     Route: 064
  1092. FINACEA [Concomitant]
     Active Substance: AZELAIC ACID
     Route: 064
  1093. FLUTICASONE [Concomitant]
     Active Substance: FLUTICASONE
     Indication: Product used for unknown indication
     Route: 064
  1094. HYDROCORTISONE PROBUTATE [Concomitant]
     Active Substance: HYDROCORTISONE PROBUTATE
     Indication: Product used for unknown indication
     Route: 064
  1095. HYDROMORPHONE [Concomitant]
     Active Substance: HYDROMORPHONE
     Indication: Product used for unknown indication
     Route: 064
  1096. HYDROMORPHONE [Concomitant]
     Active Substance: HYDROMORPHONE
     Route: 064
  1097. HYDROMORPHONE [Concomitant]
     Active Substance: HYDROMORPHONE
     Route: 064
  1098. HYDROMORPHONE [Concomitant]
     Active Substance: HYDROMORPHONE
     Route: 064
  1099. LAMOTRIGINE [Concomitant]
     Active Substance: LAMOTRIGINE
     Indication: Product used for unknown indication
     Route: 064
  1100. LAMOTRIGINE [Concomitant]
     Active Substance: LAMOTRIGINE
     Route: 064
  1101. LAMOTRIGINE [Concomitant]
     Active Substance: LAMOTRIGINE
     Route: 064
  1102. LAMOTRIGINE [Concomitant]
     Active Substance: LAMOTRIGINE
     Route: 064
  1103. LEVOMILNACIPRAN [Concomitant]
     Active Substance: LEVOMILNACIPRAN
     Indication: Product used for unknown indication
     Route: 064
  1104. LEVOMILNACIPRAN [Concomitant]
     Active Substance: LEVOMILNACIPRAN
     Route: 064
  1105. LEVOMILNACIPRAN [Concomitant]
     Active Substance: LEVOMILNACIPRAN
     Route: 064
  1106. FLUMETHASONE PIVALATE [Concomitant]
     Active Substance: FLUMETHASONE PIVALATE
     Indication: Product used for unknown indication
     Route: 064
  1107. METHYLPREDNISOLONE [Concomitant]
     Active Substance: METHYLPREDNISOLONE
     Indication: Product used for unknown indication
     Route: 064
  1108. METHYLPREDNISOLONE [Concomitant]
     Active Substance: METHYLPREDNISOLONE
     Route: 064
  1109. MINOCYCLINE [Concomitant]
     Active Substance: MINOCYCLINE HYDROCHLORIDE
     Indication: Product used for unknown indication
     Route: 064
  1110. MYRBETRIQ [Concomitant]
     Active Substance: MIRABEGRON
     Indication: Product used for unknown indication
     Route: 064
  1111. MYRBETRIQ [Concomitant]
     Active Substance: MIRABEGRON
     Route: 064
  1112. MYRBETRIQ [Concomitant]
     Active Substance: MIRABEGRON
     Route: 064
  1113. MYRBETRIQ [Concomitant]
     Active Substance: MIRABEGRON
     Route: 064
  1114. PHOSPHORUS [Concomitant]
     Active Substance: PHOSPHORUS
     Indication: Product used for unknown indication
     Route: 064
  1115. RANITIDINE [Concomitant]
     Active Substance: RANITIDINE
     Indication: Product used for unknown indication
     Route: 064
  1116. RANITIDINE [Concomitant]
     Active Substance: RANITIDINE
     Route: 064
  1117. RANITIDINE [Concomitant]
     Active Substance: RANITIDINE
     Route: 064
  1118. RANITIDINE [Concomitant]
     Active Substance: RANITIDINE
     Route: 064
  1119. SIRUKUMAB [Concomitant]
     Active Substance: SIRUKUMAB
     Indication: Product used for unknown indication
     Route: 064
  1120. TOPIRAMATE [Concomitant]
     Active Substance: TOPIRAMATE
     Indication: Product used for unknown indication
     Route: 064
  1121. TOPIRAMATE [Concomitant]
     Active Substance: TOPIRAMATE
     Route: 064
  1122. TOPIRAMATE [Concomitant]
     Active Substance: TOPIRAMATE
     Route: 064
  1123. TOPIRAMATE [Concomitant]
     Active Substance: TOPIRAMATE
     Route: 064
  1124. TOPIRAMATE [Concomitant]
     Active Substance: TOPIRAMATE
     Route: 064
  1125. TOPIRAMATE [Concomitant]
     Active Substance: TOPIRAMATE
     Route: 064
  1126. TOPIRAMATE [Concomitant]
     Active Substance: TOPIRAMATE
     Route: 064
  1127. TOPIRAMATE [Concomitant]
     Active Substance: TOPIRAMATE
     Route: 064
  1128. TRAZODONE [Concomitant]
     Active Substance: TRAZODONE HYDROCHLORIDE
     Indication: Product used for unknown indication
     Route: 064
  1129. TRETINOIN [Concomitant]
     Active Substance: TRETINOIN
     Indication: Product used for unknown indication
     Route: 064
  1130. AZATHIOPRINE SODIUM [Concomitant]
     Active Substance: AZATHIOPRINE SODIUM
     Indication: Product used for unknown indication
     Route: 064
  1131. BUTRANS [Concomitant]
     Active Substance: BUPRENORPHINE
     Indication: Product used for unknown indication
     Route: 064
  1132. BUTRANS [Concomitant]
     Active Substance: BUPRENORPHINE
     Route: 064
  1133. LAMICTAL [Concomitant]
     Active Substance: LAMOTRIGINE
     Indication: Product used for unknown indication
     Route: 064
  1134. LAMICTAL [Concomitant]
     Active Substance: LAMOTRIGINE
     Route: 064
  1135. LAMICTAL [Concomitant]
     Active Substance: LAMOTRIGINE
     Route: 064
  1136. LAMICTAL [Concomitant]
     Active Substance: LAMOTRIGINE
     Route: 064
  1137. LAMICTAL [Concomitant]
     Active Substance: LAMOTRIGINE
     Route: 064
  1138. LAMICTAL [Concomitant]
     Active Substance: LAMOTRIGINE
     Route: 064
  1139. LAMICTAL [Concomitant]
     Active Substance: LAMOTRIGINE
     Route: 064
  1140. MAGNESIUM CITRATE [Concomitant]
     Active Substance: MAGNESIUM CITRATE
     Indication: Product used for unknown indication
     Route: 064
  1141. THIAMINE HYDROCHLORIDE [Concomitant]
     Active Substance: THIAMINE HYDROCHLORIDE
     Indication: Product used for unknown indication
     Route: 064
  1142. THIAMINE HYDROCHLORIDE [Concomitant]
     Active Substance: THIAMINE HYDROCHLORIDE
     Route: 064
  1143. MINOCYCLINE HYDROCHLORIDE [Concomitant]
     Active Substance: MINOCYCLINE HYDROCHLORIDE
     Indication: Product used for unknown indication
     Route: 064
  1144. MINOCYCLINE HYDROCHLORIDE [Concomitant]
     Active Substance: MINOCYCLINE HYDROCHLORIDE
     Route: 064
  1145. MYOCHRYSINE [Concomitant]
     Active Substance: GOLD SODIUM THIOMALATE
     Indication: Product used for unknown indication
     Route: 064
  1146. RANITIDINE HYDROCHLORIDE [Concomitant]
     Active Substance: RANITIDINE HYDROCHLORIDE
     Indication: Product used for unknown indication
     Route: 064
  1147. ALENDRONATE SODIUM\CHOLECALCIFEROL [Concomitant]
     Active Substance: ALENDRONATE SODIUM\CHOLECALCIFEROL
     Indication: Product used for unknown indication
     Route: 064
  1148. CHLORHEXIDINE ACETATE [Concomitant]
     Active Substance: CHLORHEXIDINE ACETATE
     Indication: Product used for unknown indication
     Route: 064
  1149. CHLORHEXIDINE ACETATE [Concomitant]
     Active Substance: CHLORHEXIDINE ACETATE
     Route: 064
  1150. CHLORHEXIDINE ACETATE [Concomitant]
     Active Substance: CHLORHEXIDINE ACETATE
     Route: 064
  1151. MEGLUMINE [Concomitant]
     Active Substance: MEGLUMINE
     Indication: Product used for unknown indication
     Route: 064
  1152. ATOMOXETINE HYDROCHLORIDE [Concomitant]
     Active Substance: ATOMOXETINE HYDROCHLORIDE
     Indication: Product used for unknown indication
     Route: 064
  1153. ATOMOXETINE HYDROCHLORIDE [Concomitant]
     Active Substance: ATOMOXETINE HYDROCHLORIDE
     Route: 064
  1154. ATOMOXETINE HYDROCHLORIDE [Concomitant]
     Active Substance: ATOMOXETINE HYDROCHLORIDE
     Route: 064
  1155. ATOMOXETINE HYDROCHLORIDE [Concomitant]
     Active Substance: ATOMOXETINE HYDROCHLORIDE
     Route: 064
  1156. ATOMOXETINE HYDROCHLORIDE [Concomitant]
     Active Substance: ATOMOXETINE HYDROCHLORIDE
     Route: 064
  1157. ATOMOXETINE HYDROCHLORIDE [Concomitant]
     Active Substance: ATOMOXETINE HYDROCHLORIDE
     Route: 064
  1158. ATOMOXETINE HYDROCHLORIDE [Concomitant]
     Active Substance: ATOMOXETINE HYDROCHLORIDE
     Route: 064
  1159. ATOMOXETINE HYDROCHLORIDE [Concomitant]
     Active Substance: ATOMOXETINE HYDROCHLORIDE
     Route: 064
  1160. HAIR KERATIN AMINO ACIDS GOLD COMPLEX [Concomitant]
     Active Substance: HAIR KERATIN AMINO ACIDS GOLD COMPLEX
     Indication: Product used for unknown indication
     Route: 064
  1161. TRAMADOL HYDROCHLORIDE [Concomitant]
     Active Substance: TRAMADOL HYDROCHLORIDE
     Indication: Product used for unknown indication
     Route: 064
  1162. TRAMADOL HYDROCHLORIDE [Concomitant]
     Active Substance: TRAMADOL HYDROCHLORIDE
     Route: 064
  1163. DESOGESTREL [Concomitant]
     Active Substance: DESOGESTREL
     Indication: Product used for unknown indication
     Route: 064
  1164. CLIOQUINOL\FLUMETHASONE [Concomitant]
     Active Substance: CLIOQUINOL\FLUMETHASONE
     Indication: Product used for unknown indication
     Route: 064
  1165. ACETAMINOPHEN\BUTALBITAL\CAFFEINE\CODEINE PHOSPHATE [Concomitant]
     Active Substance: ACETAMINOPHEN\BUTALBITAL\CAFFEINE\CODEINE PHOSPHATE
     Indication: Product used for unknown indication
     Route: 064
  1166. TRIAMCINOLONE [Concomitant]
     Active Substance: TRIAMCINOLONE
     Indication: Product used for unknown indication
     Route: 064
  1167. TRIAMCINOLONE [Concomitant]
     Active Substance: TRIAMCINOLONE
     Route: 064
  1168. ACETAMINOPHEN\BUTALBITAL [Concomitant]
     Active Substance: ACETAMINOPHEN\BUTALBITAL
     Indication: Product used for unknown indication
     Route: 064
  1169. CYANOCOBALAMIN [Concomitant]
     Active Substance: CYANOCOBALAMIN
     Indication: Product used for unknown indication
     Route: 064
  1170. CYANOCOBALAMIN [Concomitant]
     Active Substance: CYANOCOBALAMIN
     Route: 064
  1171. METFORMIN HYDROCHLORIDE [Concomitant]
     Active Substance: METFORMIN HYDROCHLORIDE
     Indication: Product used for unknown indication
     Route: 064
  1172. MAGNESIUM HYDROXIDE [Concomitant]
     Active Substance: MAGNESIUM HYDROXIDE
     Indication: Product used for unknown indication
     Route: 064
  1173. FLUTICASONE PROPIONATE [Concomitant]
     Active Substance: FLUTICASONE PROPIONATE
     Indication: Product used for unknown indication
     Route: 064
  1174. ERENUMAB [Concomitant]
     Active Substance: ERENUMAB
     Indication: Product used for unknown indication
     Route: 064
  1175. ERENUMAB [Concomitant]
     Active Substance: ERENUMAB
     Route: 064
  1176. ERENUMAB [Concomitant]
     Active Substance: ERENUMAB
     Route: 064
  1177. PSEUDOEPHEDRINE HYDROCHLORIDE [Concomitant]
     Active Substance: PSEUDOEPHEDRINE HYDROCHLORIDE
     Indication: Product used for unknown indication
     Route: 064
  1178. PSEUDOEPHEDRINE HYDROCHLORIDE [Concomitant]
     Active Substance: PSEUDOEPHEDRINE HYDROCHLORIDE
     Route: 064
  1179. PSEUDOEPHEDRINE HYDROCHLORIDE [Concomitant]
     Active Substance: PSEUDOEPHEDRINE HYDROCHLORIDE
     Route: 064
  1180. DEXTROMETHORPHAN [Concomitant]
     Active Substance: DEXTROMETHORPHAN
     Indication: Product used for unknown indication
     Route: 064
  1181. MINOCYCLINE HYDROCHLORIDE [Concomitant]
     Active Substance: MINOCYCLINE HYDROCHLORIDE
     Indication: Product used for unknown indication
     Route: 064
  1182. NICOTINAMIDE [Concomitant]
     Active Substance: NIACINAMIDE
     Indication: Product used for unknown indication
     Route: 064
  1183. PHENYLEPHRINE HYDROCHLORIDE [Concomitant]
     Active Substance: PHENYLEPHRINE HYDROCHLORIDE
     Indication: Product used for unknown indication
     Route: 064
  1184. RETINOL [Concomitant]
     Active Substance: RETINOL
     Indication: Product used for unknown indication
     Route: 064
  1185. ZINC [Concomitant]
     Active Substance: ZINC
     Indication: Product used for unknown indication
     Route: 064
  1186. ERENUMAB-AOOE [Concomitant]
     Active Substance: ERENUMAB-AOOE
     Indication: Product used for unknown indication
     Route: 064
  1187. FLUTICASONE PROPIONATE [Concomitant]
     Active Substance: FLUTICASONE PROPIONATE
     Indication: Product used for unknown indication
     Route: 064
  1188. SODIUM AUROTIOSULFATE [Concomitant]
     Active Substance: SODIUM AUROTIOSULFATE
     Indication: Product used for unknown indication
     Route: 064
  1189. RIBOFLAVIN [Concomitant]
     Active Substance: RIBOFLAVIN
     Indication: Product used for unknown indication
     Route: 064
  1190. ZINC [Concomitant]
     Active Substance: ZINC
     Indication: Product used for unknown indication
     Route: 064
  1191. RHEUMATREX [Concomitant]
     Active Substance: METHOTREXATE SODIUM
     Indication: Product used for unknown indication
     Route: 064
  1192. HYDROMORPHONE HYDROCHLORIDE [Concomitant]
     Active Substance: HYDROMORPHONE HYDROCHLORIDE
     Indication: Product used for unknown indication
     Route: 064
  1193. ACETAMINOPHEN\NAPROXEN [Concomitant]
     Active Substance: ACETAMINOPHEN\NAPROXEN
     Indication: Product used for unknown indication
     Route: 064
  1194. ERGOCALCIFEROL\RETINOL [Concomitant]
     Active Substance: ERGOCALCIFEROL\RETINOL
     Indication: Product used for unknown indication
     Route: 064
  1195. FLUMETHASONE PIVALATE\NEOMYCIN SULFATE [Concomitant]
     Active Substance: FLUMETHASONE PIVALATE\NEOMYCIN SULFATE
     Indication: Product used for unknown indication
     Route: 064
  1196. FLUMETHASONE PIVALATE\NEOMYCIN SULFATE [Concomitant]
     Active Substance: FLUMETHASONE PIVALATE\NEOMYCIN SULFATE
     Route: 064
  1197. PREGABALIN [Concomitant]
     Active Substance: PREGABALIN
     Indication: Product used for unknown indication
     Route: 064
  1198. PREGABALIN [Concomitant]
     Active Substance: PREGABALIN
     Route: 064
  1199. DICLOFENAC [Concomitant]
     Active Substance: DICLOFENAC
     Indication: Product used for unknown indication
     Route: 064
  1200. PANTOPRAZOLE SODIUM ANHYDROUS [Concomitant]
     Active Substance: PANTOPRAZOLE SODIUM ANHYDROUS
     Indication: Product used for unknown indication
     Route: 064
  1201. PANTOPRAZOLE SODIUM ANHYDROUS [Concomitant]
     Active Substance: PANTOPRAZOLE SODIUM ANHYDROUS
     Route: 064
  1202. PANTOPRAZOLE SODIUM ANHYDROUS [Concomitant]
     Active Substance: PANTOPRAZOLE SODIUM ANHYDROUS
     Route: 064
  1203. PANTOPRAZOLE SODIUM ANHYDROUS [Concomitant]
     Active Substance: PANTOPRAZOLE SODIUM ANHYDROUS
     Route: 064
  1204. PANTOPRAZOLE SODIUM ANHYDROUS [Concomitant]
     Active Substance: PANTOPRAZOLE SODIUM ANHYDROUS
     Route: 064
  1205. PANTOPRAZOLE SODIUM ANHYDROUS [Concomitant]
     Active Substance: PANTOPRAZOLE SODIUM ANHYDROUS
     Route: 064
  1206. PANTOPRAZOLE SODIUM ANHYDROUS [Concomitant]
     Active Substance: PANTOPRAZOLE SODIUM ANHYDROUS
     Route: 064
  1207. PANTOPRAZOLE SODIUM ANHYDROUS [Concomitant]
     Active Substance: PANTOPRAZOLE SODIUM ANHYDROUS
     Route: 064
  1208. PANTOPRAZOLE SODIUM ANHYDROUS [Concomitant]
     Active Substance: PANTOPRAZOLE SODIUM ANHYDROUS
     Route: 064
  1209. PANTOPRAZOLE SODIUM ANHYDROUS [Concomitant]
     Active Substance: PANTOPRAZOLE SODIUM ANHYDROUS
     Route: 064
  1210. ASACOL [Concomitant]
     Active Substance: MESALAMINE
     Indication: Product used for unknown indication
     Route: 064
  1211. AMINOSALICYLATE CALCIUM [Concomitant]
     Active Substance: AMINOSALICYLATE CALCIUM
     Indication: Product used for unknown indication
     Route: 064
  1212. CALCIUM LACTATE [Concomitant]
     Active Substance: CALCIUM LACTATE
     Indication: Product used for unknown indication
     Route: 064
  1213. DIPHENHYDRAMINE [Concomitant]
     Active Substance: DIPHENHYDRAMINE
     Indication: Product used for unknown indication
     Route: 064
  1214. HYDROCORTISONE SODIUM SUCCINATE [Concomitant]
     Active Substance: HYDROCORTISONE SODIUM SUCCINATE
     Indication: Product used for unknown indication
     Route: 064
  1215. MESALAMINE [Concomitant]
     Active Substance: MESALAMINE
     Indication: Product used for unknown indication
     Route: 064
  1216. MESALAMINE [Concomitant]
     Active Substance: MESALAMINE
     Route: 064
  1217. PARA-AMINOSALICYLIC ACID [Concomitant]
     Active Substance: AMINOSALICYLIC ACID
     Indication: Product used for unknown indication
     Route: 064
  1218. PERCOCET [Concomitant]
     Active Substance: ACETAMINOPHEN\OXYCODONE HYDROCHLORIDE
     Indication: Product used for unknown indication
     Route: 064
  1219. FLUTICASONE FUROATE [Concomitant]
     Active Substance: FLUTICASONE FUROATE
     Indication: Product used for unknown indication
     Route: 064
  1220. AZELAIC ACID [Concomitant]
     Active Substance: AZELAIC ACID
     Indication: Product used for unknown indication
     Route: 064
  1221. AZELAIC ACID [Concomitant]
     Active Substance: AZELAIC ACID
     Route: 064
  1222. BETAMETHASONE VALERATE [Concomitant]
     Active Substance: BETAMETHASONE VALERATE
     Indication: Product used for unknown indication
     Route: 064
  1223. BETAMETHASONE VALERATE [Concomitant]
     Active Substance: BETAMETHASONE VALERATE
     Route: 064
  1224. BOTOX [Concomitant]
     Active Substance: ONABOTULINUMTOXINA
     Indication: Product used for unknown indication
     Route: 064
  1225. CALCIUM PANTOTHENATE [Concomitant]
     Active Substance: CALCIUM PANTOTHENATE
     Indication: Product used for unknown indication
     Route: 064
  1226. CALCIUM\CHOLECALCIFEROL\MAGNESIUM [Concomitant]
     Active Substance: CALCIUM\CHOLECALCIFEROL\MAGNESIUM
     Indication: Product used for unknown indication
     Route: 064
  1227. CETIRIZINE HYDROCHLORIDE\PSEUDOEPHEDRINE HYDROCHLORIDE [Concomitant]
     Active Substance: CETIRIZINE HYDROCHLORIDE\PSEUDOEPHEDRINE HYDROCHLORIDE
     Indication: Product used for unknown indication
     Route: 064
  1228. TRICHOLINE CITRATE [Concomitant]
     Active Substance: TRICHOLINE CITRATE
     Indication: Product used for unknown indication
     Route: 064
  1229. DOMPERIDONE\PANTOPRAZOLE SODIUM [Concomitant]
     Active Substance: DOMPERIDONE\PANTOPRAZOLE SODIUM
     Indication: Product used for unknown indication
     Route: 064
  1230. DOMPERIDONE\PANTOPRAZOLE SODIUM [Concomitant]
     Active Substance: DOMPERIDONE\PANTOPRAZOLE SODIUM
     Route: 064
  1231. FETZIMA [Concomitant]
     Active Substance: LEVOMILNACIPRAN HYDROCHLORIDE
     Indication: Product used for unknown indication
     Route: 064
  1232. FETZIMA [Concomitant]
     Active Substance: LEVOMILNACIPRAN HYDROCHLORIDE
     Route: 064
  1233. FLUTICASONE FUROATE [Concomitant]
     Active Substance: FLUTICASONE FUROATE
     Indication: Product used for unknown indication
     Route: 064
  1234. MAGNESIUM CARBONATE [Concomitant]
     Active Substance: MAGNESIUM CARBONATE
     Indication: Product used for unknown indication
     Route: 064
  1235. MILNACIPRAN HYDROCHLORIDE [Concomitant]
     Active Substance: MILNACIPRAN HYDROCHLORIDE
     Indication: Product used for unknown indication
     Route: 064
  1236. MILNACIPRAN HYDROCHLORIDE [Concomitant]
     Active Substance: MILNACIPRAN HYDROCHLORIDE
     Route: 064
  1237. PAROXETINE [Concomitant]
     Active Substance: PAROXETINE
     Indication: Product used for unknown indication
     Route: 064
  1238. PAROXETINE HYDROCHLORIDE [Concomitant]
     Active Substance: PAROXETINE HYDROCHLORIDE
     Indication: Product used for unknown indication
     Route: 064
  1239. PREDNICARBATE [Concomitant]
     Active Substance: PREDNICARBATE
     Indication: Product used for unknown indication
     Route: 064
  1240. PYRIDOXINE HYDROCHLORIDE [Concomitant]
     Active Substance: PYRIDOXINE HYDROCHLORIDE
     Indication: Product used for unknown indication
     Route: 064
  1241. STRATTERA [Concomitant]
     Active Substance: ATOMOXETINE HYDROCHLORIDE
     Indication: Product used for unknown indication
     Route: 064
  1242. TOPAMAX [Concomitant]
     Active Substance: TOPIRAMATE
     Indication: Product used for unknown indication
     Route: 064
  1243. TOPAMAX [Concomitant]
     Active Substance: TOPIRAMATE
     Route: 064
  1244. TRAZODONE HYDROCHLORIDE [Concomitant]
     Active Substance: TRAZODONE HYDROCHLORIDE
     Indication: Product used for unknown indication
     Route: 064
  1245. TRAZODONE HYDROCHLORIDE [Concomitant]
     Active Substance: TRAZODONE HYDROCHLORIDE
     Route: 064
  1246. ACETAMINOPHEN [Concomitant]
     Active Substance: ACETAMINOPHEN
     Indication: Product used for unknown indication
     Route: 064
  1247. TUMS [Concomitant]
     Active Substance: CALCIUM CARBONATE
     Indication: Product used for unknown indication
     Route: 064
  1248. DIETARY SUPPLEMENT\MINERALS\VITAMINS [Concomitant]
     Active Substance: DIETARY SUPPLEMENT\MINERALS\VITAMINS
     Indication: Product used for unknown indication
     Route: 064
  1249. PREGABALIN [Concomitant]
     Active Substance: PREGABALIN
     Indication: Product used for unknown indication
     Route: 064
  1250. PSEUDOEPHEDRINE HYDROCHLORIDE AND TRIPROLIDINE HYDROCHLORIDE [Concomitant]
     Active Substance: PSEUDOEPHEDRINE HYDROCHLORIDE\TRIPROLIDINE HYDROCHLORIDE
     Indication: Product used for unknown indication
     Route: 064
  1251. ACETAMINOPHEN\OXYCODONE HYDROCHLORIDE [Concomitant]
     Active Substance: ACETAMINOPHEN\OXYCODONE HYDROCHLORIDE
     Indication: Product used for unknown indication
     Route: 064
  1252. ACETAMINOPHEN\OXYCODONE HYDROCHLORIDE [Concomitant]
     Active Substance: ACETAMINOPHEN\OXYCODONE HYDROCHLORIDE
     Route: 064
  1253. ACETAMINOPHEN\OXYCODONE HYDROCHLORIDE [Concomitant]
     Active Substance: ACETAMINOPHEN\OXYCODONE HYDROCHLORIDE
     Route: 064
  1254. CALCIUM CARBONATE\CHOLECALCIFEROL\MINERALS [Concomitant]
     Active Substance: CALCIUM CARBONATE\CHOLECALCIFEROL\MINERALS
     Indication: Product used for unknown indication
     Route: 064
  1255. DIPHENHYDRAMINE HYDROCHLORIDE [Concomitant]
     Active Substance: DIPHENHYDRAMINE HYDROCHLORIDE
     Indication: Product used for unknown indication
     Route: 064
  1256. HYALURONIDASE [Concomitant]
     Active Substance: HYALURONIDASE
     Indication: Product used for unknown indication
     Route: 064
  1257. MORPHINE SULFATE [Concomitant]
     Active Substance: MORPHINE SULFATE
     Indication: Product used for unknown indication
     Route: 064
  1258. CODEINE SULFATE [Concomitant]
     Active Substance: CODEINE SULFATE
     Indication: Product used for unknown indication
     Route: 064
  1259. MAGNESIUM GLUCONATE [Concomitant]
     Active Substance: MAGNESIUM GLUCONATE
     Indication: Product used for unknown indication
     Route: 064
  1260. MAGNESIUM GLUCONATE [Concomitant]
     Active Substance: MAGNESIUM GLUCONATE
     Route: 064
  1261. ETHINYL ESTRADIOL [Concomitant]
     Active Substance: ETHINYL ESTRADIOL
     Indication: Product used for unknown indication
     Route: 064
  1262. ADVIL (MEFENAMIC ACID) [Concomitant]
     Active Substance: MEFENAMIC ACID
     Indication: Product used for unknown indication
     Route: 064
  1263. CALCIUM CARBONATE\CHOLECALCIFEROL [Concomitant]
     Active Substance: CALCIUM CARBONATE\CHOLECALCIFEROL
     Indication: Product used for unknown indication
     Route: 064
  1264. ENTYVIO [Concomitant]
     Active Substance: VEDOLIZUMAB
     Indication: Product used for unknown indication
     Route: 064
  1265. PSEUDOEPHEDRINE HYDROCHLORIDE AND TRIPROLIDINE HYDROCHLORIDE [Concomitant]
     Active Substance: PSEUDOEPHEDRINE HYDROCHLORIDE\TRIPROLIDINE HYDROCHLORIDE
     Indication: Product used for unknown indication
     Route: 064
  1266. RINVOQ [Concomitant]
     Active Substance: UPADACITINIB
     Indication: Product used for unknown indication
     Route: 064
  1267. CORTISONE (HYDROCORTISONE) [Concomitant]
     Active Substance: HYDROCORTISONE
     Indication: Product used for unknown indication
     Route: 064
  1268. CORTISONE (HYDROCORTISONE) [Concomitant]
     Active Substance: HYDROCORTISONE
     Route: 064
  1269. TETRACYCLINE HYDROCHLORIDE [Concomitant]
     Active Substance: TETRACYCLINE HYDROCHLORIDE
     Indication: Product used for unknown indication
     Route: 064
  1270. THIAMINE HYDROCHLORIDE [Concomitant]
     Active Substance: THIAMINE HYDROCHLORIDE
     Indication: Product used for unknown indication
     Route: 064
  1271. TRAMADOL HYDROCHLORIDE [Concomitant]
     Active Substance: TRAMADOL HYDROCHLORIDE
     Indication: Product used for unknown indication
     Route: 064
  1272. ACETAMINOPHEN [Concomitant]
     Active Substance: ACETAMINOPHEN
     Indication: Product used for unknown indication
     Route: 064
  1273. DEXTROMETHORPHAN HYDROBROMIDE\PSEUDOEPHEDRINE HYDROCHLORIDE [Concomitant]
     Active Substance: DEXTROMETHORPHAN HYDROBROMIDE\PSEUDOEPHEDRINE HYDROCHLORIDE
     Indication: Product used for unknown indication
     Route: 064
  1274. DOCONEXENT\ICOSAPENT [Concomitant]
     Active Substance: DOCONEXENT\ICOSAPENT
     Indication: Product used for unknown indication
     Route: 064
  1275. DOCONEXENT\ICOSAPENT [Concomitant]
     Active Substance: DOCONEXENT\ICOSAPENT
     Route: 064
  1276. SECUKINUMAB [Concomitant]
     Active Substance: SECUKINUMAB
     Indication: Product used for unknown indication
     Route: 064
  1277. MARVELON [Concomitant]
     Active Substance: DESOGESTREL\ETHINYL ESTRADIOL
     Indication: Product used for unknown indication
     Route: 064
  1278. TRIMETHOPRIM [Concomitant]
     Active Substance: TRIMETHOPRIM
     Indication: Product used for unknown indication
     Route: 064
  1279. COCOA BUTTER\PHENYLEPHRINE HYDROCHLORIDE [Concomitant]
     Active Substance: COCOA BUTTER\PHENYLEPHRINE HYDROCHLORIDE
     Indication: Product used for unknown indication
     Route: 064
  1280. PARA-AMINOSALICYLIC ACID [Concomitant]
     Active Substance: AMINOSALICYLIC ACID
     Indication: Product used for unknown indication
     Route: 064
  1281. CALCIUM CHLORIDE [Concomitant]
     Active Substance: CALCIUM CHLORIDE
     Indication: Product used for unknown indication
     Route: 064
  1282. ELBASVIR [Concomitant]
     Active Substance: ELBASVIR
     Indication: Product used for unknown indication
     Route: 064
  1283. MAGNESIUM OXIDE [Concomitant]
     Active Substance: MAGNESIUM OXIDE
     Indication: Product used for unknown indication
     Route: 064
  1284. PREPARATION H HYDROCORTISONE [Concomitant]
     Active Substance: HYDROCORTISONE
     Indication: Product used for unknown indication
     Route: 064
  1285. CHLORHEXIDINE GLUCONATE\CLOTRIMAZOLE\ISOPROPYL ALCOHOL [Concomitant]
     Active Substance: CHLORHEXIDINE GLUCONATE\CLOTRIMAZOLE\ISOPROPYL ALCOHOL
     Indication: Product used for unknown indication
     Route: 064
  1286. CHLORHEXIDINE GLUCONATE\CLOTRIMAZOLE\ISOPROPYL ALCOHOL [Concomitant]
     Active Substance: CHLORHEXIDINE GLUCONATE\CLOTRIMAZOLE\ISOPROPYL ALCOHOL
     Route: 064
  1287. CINRYZE [Concomitant]
     Active Substance: HUMAN C1-ESTERASE INHIBITOR
     Indication: Product used for unknown indication
     Route: 064
  1288. DEXPANTHENOL [Concomitant]
     Active Substance: DEXPANTHENOL
     Indication: Product used for unknown indication
     Route: 064
  1289. DOCONEXENT [Concomitant]
     Active Substance: DOCONEXENT
     Indication: Product used for unknown indication
     Route: 064
  1290. ICOSAPENT [Concomitant]
     Active Substance: ICOSAPENT
     Indication: Product used for unknown indication
     Route: 064
  1291. LYSINE HYDROCHLORIDE [Concomitant]
     Active Substance: LYSINE HYDROCHLORIDE
     Indication: Product used for unknown indication
     Route: 064
  1292. METHYLCOBALAMIN [Concomitant]
     Active Substance: METHYLCOBALAMIN
     Indication: Product used for unknown indication
     Route: 064
  1293. IRON\VITAMINS [Concomitant]
     Active Substance: IRON\VITAMINS
     Indication: Product used for unknown indication
     Route: 064
  1294. PREDNISONE ACETATE [Concomitant]
     Active Substance: PREDNISONE ACETATE
     Indication: Product used for unknown indication
     Route: 064
  1295. SULFATRIM [Concomitant]
     Active Substance: SULFAMETHOXAZOLE\TRIMETHOPRIM
     Indication: Product used for unknown indication
     Route: 064
  1296. BORAGE OIL [Concomitant]
     Active Substance: BORAGE OIL
     Indication: Product used for unknown indication
     Route: 064
  1297. DILTIAZEM [Concomitant]
     Active Substance: DILTIAZEM
     Indication: Product used for unknown indication
     Route: 064
  1298. DILTIAZEM HYDROCHLORIDE [Concomitant]
     Active Substance: DILTIAZEM HYDROCHLORIDE
     Indication: Product used for unknown indication
     Route: 064
  1299. DILTIAZEM HYDROCHLORIDE [Concomitant]
     Active Substance: DILTIAZEM HYDROCHLORIDE
     Route: 064

REACTIONS (2)
  - Congenital anomaly [Unknown]
  - Foetal exposure during pregnancy [Unknown]
